FAERS Safety Report 21113902 (Version 1)
Quarter: 2022Q3

REPORT INFORMATION
  Report Type: Report from Study
  Country: IE (occurrence: IE)
  Receive Date: 20220721
  Receipt Date: 20220721
  Transmission Date: 20221027
  Serious: Yes (Death, Hospitalization, Other)
  Sender: FDA-Public Use
  Company Number: GB-CELGENE-GBR-20191004799

PATIENT
  Age: 74 Year
  Sex: Male

DRUGS (712)
  1. DEXAMETHASONE [Suspect]
     Active Substance: DEXAMETHASONE
     Indication: Plasma cell myeloma
     Dosage: UNK
     Route: 048
     Dates: start: 20180917
  2. DEXAMETHASONE [Suspect]
     Active Substance: DEXAMETHASONE
     Indication: Product used for unknown indication
     Dosage: UNK
     Route: 048
     Dates: start: 20181015
  3. DEXAMETHASONE [Suspect]
     Active Substance: DEXAMETHASONE
     Dosage: 20 MILLIGRAM
     Route: 048
     Dates: start: 20180917, end: 20181007
  4. DEXAMETHASONE [Suspect]
     Active Substance: DEXAMETHASONE
     Dosage: 20 MILLIGRAM, QW
     Route: 048
     Dates: start: 20190614, end: 20190830
  5. DEXAMETHASONE [Suspect]
     Active Substance: DEXAMETHASONE
     Dosage: UNK
     Route: 065
  6. DEXAMETHASONE [Suspect]
     Active Substance: DEXAMETHASONE
     Dosage: UNK
     Route: 048
  7. DEXAMETHASONE [Suspect]
     Active Substance: DEXAMETHASONE
     Dosage: 20 MILLIGRAM
     Route: 048
     Dates: start: 20181113, end: 20181203
  8. DEXAMETHASONE [Suspect]
     Active Substance: DEXAMETHASONE
     Dosage: 20 MILLIGRAM, QW
     Route: 048
     Dates: start: 20191213, end: 20191228
  9. DEXAMETHASONE [Suspect]
     Active Substance: DEXAMETHASONE
     Dosage: 20 MILLIGRAM, QW
     Route: 048
     Dates: start: 20180821, end: 20190101
  10. DEXAMETHASONE [Suspect]
     Active Substance: DEXAMETHASONE
     Dosage: 20 MILLIGRAM
     Route: 048
     Dates: start: 20181211, end: 20190101
  11. DEXAMETHASONE [Suspect]
     Active Substance: DEXAMETHASONE
     Dosage: 20 MILLIGRAM
     Route: 048
     Dates: start: 20190123
  12. DEXAMETHASONE [Suspect]
     Active Substance: DEXAMETHASONE
     Dosage: UNK
     Route: 048
     Dates: start: 20181112
  13. DEXAMETHASONE [Suspect]
     Active Substance: DEXAMETHASONE
     Dosage: UNK
     Route: 065
     Dates: start: 20181210
  14. DEXAMETHASONE [Suspect]
     Active Substance: DEXAMETHASONE
     Dosage: UNK
     Route: 048
     Dates: start: 20190809
  15. DEXAMETHASONE [Suspect]
     Active Substance: DEXAMETHASONE
     Dosage: UNK
     Route: 065
     Dates: start: 20181015
  16. DEXAMETHASONE [Suspect]
     Active Substance: DEXAMETHASONE
     Dosage: 20 MILLIGRAM
     Route: 048
     Dates: start: 20181016, end: 20181105
  17. DEXAMETHASONE [Suspect]
     Active Substance: DEXAMETHASONE
     Dosage: UNK
     Route: 065
     Dates: start: 20190809
  18. DEXAMETHASONE [Suspect]
     Active Substance: DEXAMETHASONE
     Dosage: 20 MILLIGRAM, QW
     Route: 048
     Dates: start: 20191228
  19. DEXAMETHASONE [Suspect]
     Active Substance: DEXAMETHASONE
     Dosage: 20 MILLIGRAM, QW
     Route: 048
     Dates: start: 20190906, end: 20191010
  20. DEXAMETHASONE [Suspect]
     Active Substance: DEXAMETHASONE
     Dosage: UNK
     Route: 048
     Dates: start: 20181210
  21. DEXAMETHASONE [Suspect]
     Active Substance: DEXAMETHASONE
     Dosage: UNK
     Route: 048
     Dates: start: 20181015
  22. DEXAMETHASONE [Suspect]
     Active Substance: DEXAMETHASONE
     Dosage: 20 MILLIGRAM, QW
     Route: 048
     Dates: start: 20190906, end: 20191228
  23. DEXAMETHASONE [Suspect]
     Active Substance: DEXAMETHASONE
     Dosage: UNK
     Route: 065
     Dates: start: 20181112
  24. DEXAMETHASONE [Suspect]
     Active Substance: DEXAMETHASONE
     Dosage: UNK
     Route: 065
  25. DEXAMETHASONE [Suspect]
     Active Substance: DEXAMETHASONE
     Dosage: UNK
     Route: 048
  26. DEXAMETHASONE [Suspect]
     Active Substance: DEXAMETHASONE
     Dosage: UNK
     Route: 065
  27. DEXAMETHASONE [Suspect]
     Active Substance: DEXAMETHASONE
     Dosage: 20 MILLIGRAM, 1/WEEK
     Dates: start: 20190906, end: 20191010
  28. DEXAMETHASONE [Suspect]
     Active Substance: DEXAMETHASONE
     Dosage: 20 MILLIGRAM, QW
     Route: 048
     Dates: start: 20190906, end: 20191228
  29. DEXAMETHASONE [Suspect]
     Active Substance: DEXAMETHASONE
     Dosage: 20 MG, QW
     Route: 048
     Dates: start: 20191006, end: 20191010
  30. DEXAMETHASONE [Suspect]
     Active Substance: DEXAMETHASONE
     Dosage: UNK
     Route: 048
  31. DEXAMETHASONE [Suspect]
     Active Substance: DEXAMETHASONE
     Dosage: UNK
     Route: 065
  32. DEXAMETHASONE [Suspect]
     Active Substance: DEXAMETHASONE
     Dosage: UNK
     Route: 048
  33. DEXAMETHASONE [Suspect]
     Active Substance: DEXAMETHASONE
     Dosage: UNK
     Route: 065
  34. DEXAMETHASONE [Suspect]
     Active Substance: DEXAMETHASONE
     Dosage: UNK
     Route: 048
  35. DEXAMETHASONE [Suspect]
     Active Substance: DEXAMETHASONE
     Dosage: UNK
     Route: 048
  36. DEXAMETHASONE [Suspect]
     Active Substance: DEXAMETHASONE
     Dosage: UNK
     Route: 065
  37. DEXAMETHASONE [Suspect]
     Active Substance: DEXAMETHASONE
     Dosage: UNK
     Route: 065
     Dates: start: 20190829
  38. DEXAMETHASONE [Suspect]
     Active Substance: DEXAMETHASONE
     Dosage: UNK
     Route: 048
  39. DEXAMETHASONE [Suspect]
     Active Substance: DEXAMETHASONE
     Dosage: UNK
     Route: 065
  40. DEXAMETHASONE [Suspect]
     Active Substance: DEXAMETHASONE
     Dosage: UNK
  41. DEXAMETHASONE [Suspect]
     Active Substance: DEXAMETHASONE
     Dosage: UNK
     Dates: start: 20181010
  42. DEXAMETHASONE [Suspect]
     Active Substance: DEXAMETHASONE
     Route: 065
  43. DEXAMETHASONE [Suspect]
     Active Substance: DEXAMETHASONE
     Route: 065
  44. DEXAMETHASONE [Suspect]
     Active Substance: DEXAMETHASONE
     Route: 065
  45. REVLIMID [Suspect]
     Active Substance: LENALIDOMIDE
     Indication: Plasma cell myeloma
     Dosage: 25 MILLIGRAM, QD
     Route: 048
     Dates: start: 20191213
  46. REVLIMID [Suspect]
     Active Substance: LENALIDOMIDE
     Dosage: UNK
     Route: 048
  47. REVLIMID [Suspect]
     Active Substance: LENALIDOMIDE
     Dosage: 25 MILLIGRAM, QD
     Route: 048
     Dates: start: 20181015, end: 20181104
  48. REVLIMID [Suspect]
     Active Substance: LENALIDOMIDE
     Dosage: 25 MILLIGRAM, QD
     Route: 048
     Dates: start: 20190809, end: 20190829
  49. REVLIMID [Suspect]
     Active Substance: LENALIDOMIDE
     Dosage: 25 MILLIGRAM, QD
     Route: 048
     Dates: start: 20191213, end: 20191231
  50. REVLIMID [Suspect]
     Active Substance: LENALIDOMIDE
     Dosage: 25 MILLIGRAM, QD
     Route: 048
     Dates: start: 20181210, end: 20181231
  51. REVLIMID [Suspect]
     Active Substance: LENALIDOMIDE
     Dosage: 25 MILLIGRAM, QD
     Route: 048
     Dates: start: 20180917, end: 20181007
  52. REVLIMID [Suspect]
     Active Substance: LENALIDOMIDE
     Dosage: 25 MILLIGRAM, QD
     Route: 048
     Dates: start: 20190712, end: 20190801
  53. REVLIMID [Suspect]
     Active Substance: LENALIDOMIDE
     Dosage: UNK
     Route: 048
  54. REVLIMID [Suspect]
     Active Substance: LENALIDOMIDE
     Dosage: 25 MILLIGRAM, OD
     Route: 048
     Dates: start: 20181112, end: 20181202
  55. REVLIMID [Suspect]
     Active Substance: LENALIDOMIDE
     Dosage: UNK
     Route: 065
  56. REVLIMID [Suspect]
     Active Substance: LENALIDOMIDE
     Dosage: 25 MILLIGRAM, QD
     Route: 048
     Dates: start: 20180821, end: 20180909
  57. REVLIMID [Suspect]
     Active Substance: LENALIDOMIDE
     Dosage: UNK
     Route: 065
     Dates: start: 20181210
  58. REVLIMID [Suspect]
     Active Substance: LENALIDOMIDE
     Dosage: 25 MILLIGRAM, QD
     Route: 048
     Dates: start: 20190614, end: 20190704
  59. REVLIMID [Suspect]
     Active Substance: LENALIDOMIDE
     Dosage: 25 MILLIGRAM, QD
     Route: 048
     Dates: start: 20191112, end: 20191202
  60. REVLIMID [Suspect]
     Active Substance: LENALIDOMIDE
     Dosage: UNK
     Route: 048
  61. REVLIMID [Suspect]
     Active Substance: LENALIDOMIDE
     Dosage: 25 MILLIGRAM, OD
     Route: 048
     Dates: start: 20181210, end: 20181231
  62. REVLIMID [Suspect]
     Active Substance: LENALIDOMIDE
     Dosage: 25 MILLIGRAM, OD
     Route: 048
     Dates: start: 20190906, end: 20191231
  63. REVLIMID [Suspect]
     Active Substance: LENALIDOMIDE
     Dosage: 25 MILLIGRAM, QD
     Route: 048
     Dates: start: 20191112, end: 20191202
  64. REVLIMID [Suspect]
     Active Substance: LENALIDOMIDE
     Dosage: UNK
     Route: 048
  65. REVLIMID [Suspect]
     Active Substance: LENALIDOMIDE
     Dosage: 25 MILLIGRAM, OD
     Route: 048
     Dates: start: 20190906, end: 20191010
  66. REVLIMID [Suspect]
     Active Substance: LENALIDOMIDE
     Dosage: 25 MILLIGRAM, QD
     Route: 048
     Dates: start: 20191210
  67. REVLIMID [Suspect]
     Active Substance: LENALIDOMIDE
     Dosage: 300 MILLIGRAM, QW
     Route: 065
     Dates: start: 20191213
  68. REVLIMID [Suspect]
     Active Substance: LENALIDOMIDE
     Dosage: 25 MILLIGRAM, QD
     Route: 048
     Dates: start: 20181015, end: 20181104
  69. REVLIMID [Suspect]
     Active Substance: LENALIDOMIDE
     Dosage: UNK
     Route: 065
  70. REVLIMID [Suspect]
     Active Substance: LENALIDOMIDE
     Dosage: 25 MILLIGRAM, AM
     Route: 048
     Dates: start: 20190123
  71. REVLIMID [Suspect]
     Active Substance: LENALIDOMIDE
     Dosage: 4 MILLIGRAM, 1 DOSE WEEKLY
     Route: 065
     Dates: start: 20190629
  72. REVLIMID [Suspect]
     Active Substance: LENALIDOMIDE
     Dosage: UNK
     Route: 048
     Dates: start: 20191231
  73. REVLIMID [Suspect]
     Active Substance: LENALIDOMIDE
     Dosage: UNK
     Route: 048
  74. REVLIMID [Suspect]
     Active Substance: LENALIDOMIDE
     Dosage: UNK
     Route: 048
  75. REVLIMID [Suspect]
     Active Substance: LENALIDOMIDE
     Dosage: UNK
     Route: 065
  76. REVLIMID [Suspect]
     Active Substance: LENALIDOMIDE
     Dosage: UNK
     Route: 048
  77. REVLIMID [Suspect]
     Active Substance: LENALIDOMIDE
     Dosage: UNK
     Route: 065
  78. REVLIMID [Suspect]
     Active Substance: LENALIDOMIDE
     Dosage: UNK
     Route: 048
  79. REVLIMID [Suspect]
     Active Substance: LENALIDOMIDE
     Dosage: UNK
     Route: 048
  80. REVLIMID [Suspect]
     Active Substance: LENALIDOMIDE
     Dosage: 25 MG, QD
     Route: 048
     Dates: start: 20190906, end: 20191231
  81. REVLIMID [Suspect]
     Active Substance: LENALIDOMIDE
     Dosage: UNK
     Route: 048
  82. REVLIMID [Suspect]
     Active Substance: LENALIDOMIDE
     Dosage: UNK
     Route: 048
  83. REVLIMID [Suspect]
     Active Substance: LENALIDOMIDE
     Dosage: UNK
     Route: 048
  84. REVLIMID [Suspect]
     Active Substance: LENALIDOMIDE
     Dosage: UNK
     Route: 048
  85. REVLIMID [Suspect]
     Active Substance: LENALIDOMIDE
     Dosage: UNK
     Route: 048
  86. REVLIMID [Suspect]
     Active Substance: LENALIDOMIDE
     Dosage: UNK
     Route: 065
  87. REVLIMID [Suspect]
     Active Substance: LENALIDOMIDE
     Dosage: UNK
     Route: 065
  88. REVLIMID [Suspect]
     Active Substance: LENALIDOMIDE
     Dosage: UNK
     Route: 048
  89. REVLIMID [Suspect]
     Active Substance: LENALIDOMIDE
     Dosage: UNK
     Route: 048
  90. REVLIMID [Suspect]
     Active Substance: LENALIDOMIDE
     Dosage: UNK
     Route: 065
  91. REVLIMID [Suspect]
     Active Substance: LENALIDOMIDE
     Dosage: UNK
     Route: 065
  92. REVLIMID [Suspect]
     Active Substance: LENALIDOMIDE
     Dosage: UNK
     Route: 048
  93. REVLIMID [Suspect]
     Active Substance: LENALIDOMIDE
     Dosage: UNK
     Route: 048
  94. REVLIMID [Suspect]
     Active Substance: LENALIDOMIDE
     Dosage: UNK
     Route: 048
  95. REVLIMID [Suspect]
     Active Substance: LENALIDOMIDE
     Dosage: UNK
     Route: 048
  96. REVLIMID [Suspect]
     Active Substance: LENALIDOMIDE
     Dosage: UNK
     Route: 048
  97. REVLIMID [Suspect]
     Active Substance: LENALIDOMIDE
     Dosage: UNK
     Route: 048
  98. REVLIMID [Suspect]
     Active Substance: LENALIDOMIDE
     Dosage: UNK
     Route: 048
  99. REVLIMID [Suspect]
     Active Substance: LENALIDOMIDE
     Dosage: UNK
     Route: 065
  100. REVLIMID [Suspect]
     Active Substance: LENALIDOMIDE
     Dosage: UNK
     Route: 065
  101. REVLIMID [Suspect]
     Active Substance: LENALIDOMIDE
     Dosage: UNK
     Route: 048
  102. REVLIMID [Suspect]
     Active Substance: LENALIDOMIDE
     Dosage: UNK
     Route: 048
  103. REVLIMID [Suspect]
     Active Substance: LENALIDOMIDE
     Dosage: UNK
     Route: 048
  104. REVLIMID [Suspect]
     Active Substance: LENALIDOMIDE
     Dosage: UNK;
     Route: 048
  105. REVLIMID [Suspect]
     Active Substance: LENALIDOMIDE
     Dosage: UNK; ;
     Route: 048
  106. REVLIMID [Suspect]
     Active Substance: LENALIDOMIDE
     Dosage: UNK; ;
     Route: 048
  107. REVLIMID [Suspect]
     Active Substance: LENALIDOMIDE
     Dosage: UNK; ;
     Route: 048
  108. REVLIMID [Suspect]
     Active Substance: LENALIDOMIDE
     Dosage: UNK
     Route: 065
  109. REVLIMID [Suspect]
     Active Substance: LENALIDOMIDE
     Dosage: UNK
     Route: 048
  110. REVLIMID [Suspect]
     Active Substance: LENALIDOMIDE
     Dosage: UNK
     Route: 048
  111. REVLIMID [Suspect]
     Active Substance: LENALIDOMIDE
     Dosage: UNK
     Route: 048
  112. REVLIMID [Suspect]
     Active Substance: LENALIDOMIDE
     Dosage: UNK
     Route: 048
  113. REVLIMID [Suspect]
     Active Substance: LENALIDOMIDE
     Dosage: UNK
     Route: 065
  114. REVLIMID [Suspect]
     Active Substance: LENALIDOMIDE
     Dosage: 25 MILLIGRAM, QD
     Dates: start: 20191210
  115. REVLIMID [Suspect]
     Active Substance: LENALIDOMIDE
     Dosage: 4325 MILLIGRAM
  116. REVLIMID [Suspect]
     Active Substance: LENALIDOMIDE
     Dosage: UNK
  117. REVLIMID [Suspect]
     Active Substance: LENALIDOMIDE
     Dosage: UNK
  118. REVLIMID [Suspect]
     Active Substance: LENALIDOMIDE
     Dosage: 15 MILLIGRAM, QD
     Route: 065
  119. REVLIMID [Suspect]
     Active Substance: LENALIDOMIDE
     Dosage: UNK; ;
     Route: 048
  120. REVLIMID [Suspect]
     Active Substance: LENALIDOMIDE
     Dosage: UNK; ;
     Route: 048
  121. REVLIMID [Suspect]
     Active Substance: LENALIDOMIDE
     Dosage: UNK; ;
     Route: 048
  122. REVLIMID [Suspect]
     Active Substance: LENALIDOMIDE
     Dosage: 15 MILLIGRAM, QD
     Route: 065
  123. REVLIMID [Suspect]
     Active Substance: LENALIDOMIDE
     Dosage: UNK; ;
     Route: 048
  124. REVLIMID [Suspect]
     Active Substance: LENALIDOMIDE
     Dosage: UNK; ;
     Route: 048
  125. REVLIMID [Suspect]
     Active Substance: LENALIDOMIDE
     Dosage: UNK; ;
     Route: 048
  126. AZACITIDINE [Suspect]
     Active Substance: AZACITIDINE
     Indication: Product used for unknown indication
     Route: 065
  127. IXAZOMIB CITRATE [Suspect]
     Active Substance: IXAZOMIB CITRATE
     Indication: Plasma cell myeloma
     Dosage: UNK
     Route: 065
  128. IXAZOMIB CITRATE [Suspect]
     Active Substance: IXAZOMIB CITRATE
     Dosage: 47.5 MILLIGRAM, 1 DOSE WEEKLY
     Route: 048
     Dates: start: 20190615
  129. IXAZOMIB CITRATE [Suspect]
     Active Substance: IXAZOMIB CITRATE
     Dosage: 4 MILLIGRAM, QW
     Route: 048
     Dates: start: 20190615, end: 20190619
  130. IXAZOMIB CITRATE [Suspect]
     Active Substance: IXAZOMIB CITRATE
     Dosage: 4 MILLIGRAM, QW
     Route: 048
  131. IXAZOMIB CITRATE [Suspect]
     Active Substance: IXAZOMIB CITRATE
     Dosage: 4 MILLIGRAM, QW
     Route: 048
     Dates: start: 20190810, end: 20190824
  132. IXAZOMIB CITRATE [Suspect]
     Active Substance: IXAZOMIB CITRATE
     Dosage: 4 MILLIGRAM, QW
     Route: 048
     Dates: start: 20190620, end: 20190802
  133. IXAZOMIB CITRATE [Suspect]
     Active Substance: IXAZOMIB CITRATE
     Dosage: UNK
     Route: 048
  134. IXAZOMIB CITRATE [Suspect]
     Active Substance: IXAZOMIB CITRATE
     Dosage: 4 MILLIGRAM, QW
     Route: 048
     Dates: start: 20190629, end: 20190713
  135. IXAZOMIB CITRATE [Suspect]
     Active Substance: IXAZOMIB CITRATE
     Dosage: 4 MILLIGRAM, QW
     Route: 048
     Dates: start: 20190803, end: 20190809
  136. IXAZOMIB CITRATE [Suspect]
     Active Substance: IXAZOMIB CITRATE
     Dosage: 4 MILLIGRAM, QW
     Route: 048
     Dates: start: 20190615, end: 20190615
  137. IXAZOMIB CITRATE [Suspect]
     Active Substance: IXAZOMIB CITRATE
     Dosage: 4 MILLIGRAM, QW
     Route: 065
     Dates: start: 20190615, end: 20190622
  138. IXAZOMIB CITRATE [Suspect]
     Active Substance: IXAZOMIB CITRATE
     Dosage: UNK
     Route: 065
  139. IXAZOMIB CITRATE [Suspect]
     Active Substance: IXAZOMIB CITRATE
     Dosage: 4 MILLIGRAM, QW
     Route: 048
     Dates: start: 20191213, end: 20191226
  140. IXAZOMIB CITRATE [Suspect]
     Active Substance: IXAZOMIB CITRATE
     Dosage: UNK
     Route: 065
  141. IXAZOMIB CITRATE [Suspect]
     Active Substance: IXAZOMIB CITRATE
     Dosage: UNK
     Route: 048
  142. IXAZOMIB CITRATE [Suspect]
     Active Substance: IXAZOMIB CITRATE
     Dosage: 4 MILLIGRAM, QW
     Route: 048
  143. IXAZOMIB CITRATE [Suspect]
     Active Substance: IXAZOMIB CITRATE
     Dosage: UNK
     Route: 065
  144. IXAZOMIB [Suspect]
     Active Substance: IXAZOMIB
     Indication: Plasma cell myeloma
     Dosage: 4 MILLIGRAM, 1/WEEK
     Dates: start: 20190629, end: 20190713
  145. IXAZOMIB [Suspect]
     Active Substance: IXAZOMIB
     Dosage: 4 MILLIGRAM, 1/WEEK
     Dates: start: 20190615, end: 20190622
  146. IXAZOMIB [Suspect]
     Active Substance: IXAZOMIB
     Dosage: UNK
     Route: 065
  147. IXAZOMIB [Suspect]
     Active Substance: IXAZOMIB
     Dosage: 4 MILLIGRAM, 1/WEEK
     Dates: start: 20190615, end: 20191226
  148. IXAZOMIB [Suspect]
     Active Substance: IXAZOMIB
     Dosage: 4 MILLIGRAM, 1/WEEK
     Dates: start: 20190620, end: 20190802
  149. IXAZOMIB [Suspect]
     Active Substance: IXAZOMIB
     Dosage: 4 MILLIGRAM, 1/WEEK
     Dates: start: 20190615, end: 20190615
  150. IXAZOMIB [Suspect]
     Active Substance: IXAZOMIB
     Dosage: 4 MILLIGRAM, 1/WEEK
     Dates: start: 20191213, end: 20191226
  151. IXAZOMIB [Suspect]
     Active Substance: IXAZOMIB
     Dosage: 4 MILLIGRAM, 1/WEEK
     Dates: start: 20190803, end: 20190809
  152. IXAZOMIB [Suspect]
     Active Substance: IXAZOMIB
     Dosage: 4 MILLIGRAM, 1 DOSE WEEKLY
     Route: 048
  153. IXAZOMIB [Suspect]
     Active Substance: IXAZOMIB
     Dosage: UNK
     Route: 065
  154. IXAZOMIB [Suspect]
     Active Substance: IXAZOMIB
     Dosage: 4 MILLIGRAM, QD
     Dates: start: 20190615, end: 20190619
  155. IXAZOMIB [Suspect]
     Active Substance: IXAZOMIB
     Dosage: 4 MILLIGRAM, 1/WEEK
     Dates: start: 20190810, end: 20190824
  156. IXAZOMIB [Suspect]
     Active Substance: IXAZOMIB
     Dosage: 4 MG, WEEKLY
     Route: 048
     Dates: start: 20190629, end: 20190713
  157. IXAZOMIB [Suspect]
     Active Substance: IXAZOMIB
     Dosage: 4 MILLIGRAM, QW
     Route: 048
     Dates: start: 20190615, end: 20190619
  158. IXAZOMIB [Suspect]
     Active Substance: IXAZOMIB
     Dosage: 4 MILLIGRAM
     Route: 048
     Dates: start: 20190810, end: 20190824
  159. IXAZOMIB [Suspect]
     Active Substance: IXAZOMIB
     Dosage: 4 MILLIGRAM, QW
     Route: 048
     Dates: start: 20190615, end: 20190622
  160. IXAZOMIB [Suspect]
     Active Substance: IXAZOMIB
     Dosage: 47.5 MILLIGRAM, QW
     Route: 065
     Dates: start: 20190615
  161. IXAZOMIB [Suspect]
     Active Substance: IXAZOMIB
     Dosage: UNK
     Route: 048
  162. IXAZOMIB [Suspect]
     Active Substance: IXAZOMIB
     Dosage: 4 MILLIGRAM, QW
     Route: 048
     Dates: start: 20190615, end: 20190622
  163. IXAZOMIB [Suspect]
     Active Substance: IXAZOMIB
     Dosage: 4 MILLIGRAM, QW
     Route: 048
     Dates: start: 20190803, end: 20190809
  164. IXAZOMIB [Suspect]
     Active Substance: IXAZOMIB
     Dosage: 800 MILLIGRAM
     Dates: start: 20191231
  165. IXAZOMIB [Suspect]
     Active Substance: IXAZOMIB
     Dosage: UNK
     Route: 048
  166. IXAZOMIB [Suspect]
     Active Substance: IXAZOMIB
     Dosage: 4 MG, WEEKLY
     Route: 048
  167. IXAZOMIB [Suspect]
     Active Substance: IXAZOMIB
     Dosage: UNK
     Route: 048
  168. IXAZOMIB [Suspect]
     Active Substance: IXAZOMIB
     Dosage: 4 MG, QW
     Route: 048
     Dates: start: 20190620, end: 20190802
  169. IXAZOMIB [Suspect]
     Active Substance: IXAZOMIB
     Dosage: 4 MG, WEEKLY
     Route: 048
  170. IXAZOMIB [Suspect]
     Active Substance: IXAZOMIB
     Dosage: 20 MILLIGRAM, 1/WEEK
     Route: 048
     Dates: start: 20190614, end: 20190830
  171. IXAZOMIB [Suspect]
     Active Substance: IXAZOMIB
     Dosage: UNK
     Route: 048
  172. IXAZOMIB [Suspect]
     Active Substance: IXAZOMIB
     Dosage: FREQUENCY TEXT: NOT PROVIDED
     Route: 048
  173. IXAZOMIB [Suspect]
     Active Substance: IXAZOMIB
     Dosage: UNK
     Route: 048
  174. IXAZOMIB [Suspect]
     Active Substance: IXAZOMIB
     Dosage: UNK
     Route: 048
  175. IXAZOMIB [Suspect]
     Active Substance: IXAZOMIB
     Dosage: 4 MILLIGRAM, 1/WEEK
     Route: 048
  176. IXAZOMIB [Suspect]
     Active Substance: IXAZOMIB
     Dosage: UNK
     Route: 048
  177. IXAZOMIB [Suspect]
     Active Substance: IXAZOMIB
     Dosage: UNK
     Route: 048
  178. IXAZOMIB [Suspect]
     Active Substance: IXAZOMIB
     Dosage: 4 MG, WEEKLY
     Route: 048
  179. IXAZOMIB [Suspect]
     Active Substance: IXAZOMIB
     Dosage: UNK
     Route: 048
  180. IXAZOMIB [Suspect]
     Active Substance: IXAZOMIB
     Dosage: UNK
     Route: 048
  181. IXAZOMIB [Suspect]
     Active Substance: IXAZOMIB
     Dosage: 4 MG, QW
     Route: 048
  182. IXAZOMIB [Suspect]
     Active Substance: IXAZOMIB
     Dosage: 4 MG, WEEKLY
     Route: 048
  183. IXAZOMIB [Suspect]
     Active Substance: IXAZOMIB
     Dosage: UNK
     Route: 048
  184. IXAZOMIB [Suspect]
     Active Substance: IXAZOMIB
     Dosage: UNK
     Route: 065
  185. IXAZOMIB [Suspect]
     Active Substance: IXAZOMIB
     Dosage: 4 MILLIGRAM, QW
     Route: 048
  186. IXAZOMIB [Suspect]
     Active Substance: IXAZOMIB
     Dosage: 4 MILLIGRAM, 1 DOSE WEEKLY
     Route: 048
  187. IXAZOMIB [Suspect]
     Active Substance: IXAZOMIB
     Dosage: UNK
     Route: 048
  188. IXAZOMIB [Suspect]
     Active Substance: IXAZOMIB
     Dosage: UNK
     Route: 065
  189. IXAZOMIB [Suspect]
     Active Substance: IXAZOMIB
     Dosage: UNK
     Route: 048
  190. IXAZOMIB [Suspect]
     Active Substance: IXAZOMIB
     Dosage: 4 MG, WEEKLY
     Route: 048
  191. IXAZOMIB [Suspect]
     Active Substance: IXAZOMIB
     Dosage: UNK
     Route: 048
  192. IXAZOMIB [Suspect]
     Active Substance: IXAZOMIB
     Dosage: UNK
     Route: 048
  193. IXAZOMIB [Suspect]
     Active Substance: IXAZOMIB
     Dosage: 4 MILLIGRAM, 1/WEEK
  194. IXAZOMIB [Suspect]
     Active Substance: IXAZOMIB
     Dosage: 47.5 MILLIGRAM, 1/WEEK
  195. IXAZOMIB [Suspect]
     Active Substance: IXAZOMIB
     Dosage: 800 MILLIGRAM
  196. VENETOCLAX [Suspect]
     Active Substance: VENETOCLAX
     Indication: Product used for unknown indication
     Route: 065
  197. ENOXAPARIN SODIUM [Concomitant]
     Active Substance: ENOXAPARIN SODIUM
     Indication: Product used for unknown indication
     Dosage: 40 MILLIGRAM, OD
     Route: 048
     Dates: start: 20190103, end: 20190109
  198. PANTOPRAZOLE SODIUM [Concomitant]
     Active Substance: PANTOPRAZOLE SODIUM
     Indication: Prophylaxis
     Dosage: 80 MILLIGRAM, QD
     Route: 048
     Dates: start: 20191016
  199. PANTOPRAZOLE SODIUM [Concomitant]
     Active Substance: PANTOPRAZOLE SODIUM
     Dosage: 40 MILLIGRAM, BID (80 MG, QD)
     Route: 048
     Dates: start: 20191016
  200. PANTOPRAZOLE SODIUM [Concomitant]
     Active Substance: PANTOPRAZOLE SODIUM
     Dosage: 20 MILLIGRAM, QD
     Route: 048
     Dates: start: 20190102, end: 20190102
  201. PANTOPRAZOLE SODIUM [Concomitant]
     Active Substance: PANTOPRAZOLE SODIUM
     Dosage: 20 MILLIGRAM, OD
     Route: 048
     Dates: start: 20190102, end: 20191015
  202. PANTOPRAZOLE SODIUM [Concomitant]
     Active Substance: PANTOPRAZOLE SODIUM
     Dosage: UNK UNK, QD
     Route: 048
     Dates: start: 20191020, end: 20191020
  203. PANTOPRAZOLE SODIUM [Concomitant]
     Active Substance: PANTOPRAZOLE SODIUM
     Dosage: 80 MILLIGRAM, QD
     Route: 048
     Dates: start: 20191016
  204. PENTAZOCINE LACTATE [Concomitant]
     Active Substance: PENTAZOCINE LACTATE
     Indication: Malnutrition
     Dosage: UNK, BID
     Route: 048
     Dates: start: 20191003, end: 20191011
  205. PENTAZOCINE LACTATE [Concomitant]
     Active Substance: PENTAZOCINE LACTATE
     Dosage: UNK, BID
     Route: 065
     Dates: start: 20191003, end: 20191011
  206. PENTAZOCINE LACTATE [Concomitant]
     Active Substance: PENTAZOCINE LACTATE
     Dosage: UNK, QD
     Route: 048
     Dates: start: 20191020, end: 20191020
  207. PENTAZOCINE LACTATE [Concomitant]
     Active Substance: PENTAZOCINE LACTATE
     Dosage: UNK
     Route: 065
     Dates: start: 20191020, end: 20191029
  208. PENTAZOCINE LACTATE [Concomitant]
     Active Substance: PENTAZOCINE LACTATE
     Dosage: UNK UNK, QD
     Route: 048
     Dates: start: 20191020, end: 20191029
  209. PENTAZOCINE LACTATE [Concomitant]
     Active Substance: PENTAZOCINE LACTATE
     Dosage: UNK
     Route: 065
     Dates: start: 20191003, end: 20191011
  210. PENTAZOCINE LACTATE [Concomitant]
     Active Substance: PENTAZOCINE LACTATE
     Dosage: UNK UNK, QD
     Route: 065
     Dates: start: 20191003, end: 20191011
  211. PENTAZOCINE LACTATE [Concomitant]
     Active Substance: PENTAZOCINE LACTATE
     Dosage: UNK UNK, QD
     Route: 065
     Dates: start: 20191020, end: 20191029
  212. FOLIC ACID [Concomitant]
     Active Substance: FOLIC ACID
     Indication: Anaemia
     Dosage: 5 MILLIGRAM
     Route: 048
  213. FOLIC ACID [Concomitant]
     Active Substance: FOLIC ACID
     Dosage: 5 MILLIGRAM, QD
     Route: 048
  214. FOLIC ACID [Concomitant]
     Active Substance: FOLIC ACID
     Dosage: 5 MILLIGRAM
     Route: 048
  215. FOLIC ACID [Concomitant]
     Active Substance: FOLIC ACID
     Dosage: 5 MILLIGRAM
     Route: 048
  216. FOLIC ACID [Concomitant]
     Active Substance: FOLIC ACID
     Dosage: 5 MILLIGRAM, QD
     Route: 048
  217. CUPRIC SULFATE ANHYDROUS [Concomitant]
     Active Substance: CUPRIC SULFATE ANHYDROUS
     Indication: Malnutrition
     Dosage: UNK UNK, BID
     Route: 048
     Dates: start: 20190103, end: 20191011
  218. CUPRIC SULFATE ANHYDROUS [Concomitant]
     Active Substance: CUPRIC SULFATE ANHYDROUS
     Dosage: UNK
     Route: 065
  219. CUPRIC SULFATE ANHYDROUS [Concomitant]
     Active Substance: CUPRIC SULFATE ANHYDROUS
     Dosage: 1 DOSAGE FORM, QD
     Route: 048
     Dates: start: 20190103, end: 20191011
  220. CUPRIC SULFATE ANHYDROUS [Concomitant]
     Active Substance: CUPRIC SULFATE ANHYDROUS
     Dosage: UNK
     Route: 065
  221. CUPRIC SULFATE ANHYDROUS [Concomitant]
     Active Substance: CUPRIC SULFATE ANHYDROUS
     Dosage: UNK
     Route: 065
  222. CUPRIC SULFATE ANHYDROUS [Concomitant]
     Active Substance: CUPRIC SULFATE ANHYDROUS
     Dosage: UNK
     Route: 065
  223. CUPRIC SULFATE ANHYDROUS [Concomitant]
     Active Substance: CUPRIC SULFATE ANHYDROUS
     Dosage: UNK
     Route: 065
  224. CUPRIC SULFATE ANHYDROUS [Concomitant]
     Active Substance: CUPRIC SULFATE ANHYDROUS
     Dosage: UNK
     Route: 065
  225. CUPRIC SULFATE ANHYDROUS [Concomitant]
     Active Substance: CUPRIC SULFATE ANHYDROUS
     Dosage: UNK
     Route: 065
  226. CUPRIC SULFATE ANHYDROUS [Concomitant]
     Active Substance: CUPRIC SULFATE ANHYDROUS
     Dosage: UNK
     Route: 065
  227. CUPRIC SULFATE ANHYDROUS [Concomitant]
     Active Substance: CUPRIC SULFATE ANHYDROUS
     Dosage: UNK
     Route: 065
  228. CUPRIC SULFATE ANHYDROUS [Concomitant]
     Active Substance: CUPRIC SULFATE ANHYDROUS
     Dosage: UNK
     Route: 065
  229. CUPRIC SULFATE ANHYDROUS [Concomitant]
     Active Substance: CUPRIC SULFATE ANHYDROUS
     Dosage: UNK
     Route: 065
  230. CUPRIC SULFATE ANHYDROUS [Concomitant]
     Active Substance: CUPRIC SULFATE ANHYDROUS
     Dosage: UNK
     Route: 065
  231. CUPRIC SULFATE ANHYDROUS [Concomitant]
     Active Substance: CUPRIC SULFATE ANHYDROUS
     Dosage: UNK
     Route: 065
  232. ZODORM [ZOLPIDEM TARTRATE] [Concomitant]
     Indication: Prophylaxis
     Dosage: 10 MILLIGRAM, UNK
     Route: 048
     Dates: start: 20180816, end: 20191029
  233. ZODORM [ZOLPIDEM TARTRATE] [Concomitant]
     Dosage: 10 MILLIGRAM, UNK
     Route: 048
     Dates: start: 20180819, end: 20191029
  234. ASPIRIN [Concomitant]
     Active Substance: ASPIRIN
     Indication: Prophylaxis
     Dosage: 75 MILLIGRAM, QD
     Route: 048
  235. ASPIRIN [Concomitant]
     Active Substance: ASPIRIN
     Dosage: 75 MILLIGRAM, QD
     Route: 048
  236. ASPIRIN [Concomitant]
     Active Substance: ASPIRIN
     Dosage: 75 MILLILITER 30 ML, QD (30 MILLILITER)
     Route: 048
  237. ASPIRIN [Concomitant]
     Active Substance: ASPIRIN
     Dosage: 75 MILLIGRAM, QD
     Route: 048
  238. ASPIRIN [Concomitant]
     Active Substance: ASPIRIN
     Dosage: 75 MILLILITER 30 ML, QD (30 MILLILITER)
     Route: 048
  239. ASPIRIN [Concomitant]
     Active Substance: ASPIRIN
     Dosage: 75 MILLIGRAM, QD
     Route: 048
  240. ASPIRIN [Concomitant]
     Active Substance: ASPIRIN
     Dosage: 75 MILLIGRAM, QD
     Route: 048
  241. ASPIRIN [Concomitant]
     Active Substance: ASPIRIN
     Dosage: 75 MILLILITER 30 ML, QD (30 MILLILITER)
     Route: 048
  242. ASPIRIN [Concomitant]
     Active Substance: ASPIRIN
     Dosage: 75 MILLIGRAM, QD
     Route: 048
  243. ASPIRIN [Concomitant]
     Active Substance: ASPIRIN
     Dosage: 75 MILLIGRAM, QD
     Route: 048
  244. ASPIRIN [Concomitant]
     Active Substance: ASPIRIN
     Dosage: 75 MILLIGRAM, QD
     Route: 048
  245. ASPIRIN [Concomitant]
     Active Substance: ASPIRIN
     Dosage: 75 MILLIGRAM, QD
  246. DOXYCYCLINE [Concomitant]
     Active Substance: DOXYCYCLINE
     Indication: Product used for unknown indication
     Dosage: 200 MILLIGRAM, BID
     Route: 048
     Dates: start: 20190109, end: 20190114
  247. CALCITONIN [Concomitant]
     Active Substance: CALCITONIN
     Indication: Malnutrition
     Dosage: UNK, QD
     Route: 048
     Dates: start: 20190130, end: 20191011
  248. CALCITONIN [Concomitant]
     Active Substance: CALCITONIN
     Dosage: UNK, BID
     Route: 048
     Dates: start: 20190103, end: 20191011
  249. CALCITONIN [Concomitant]
     Active Substance: CALCITONIN
     Dosage: UNK
     Route: 065
  250. CALCITONIN [Concomitant]
     Active Substance: CALCITONIN
     Dosage: UNK
     Route: 065
  251. CALCITONIN [Concomitant]
     Active Substance: CALCITONIN
     Dosage: UNK
     Route: 065
  252. CALCITONIN [Concomitant]
     Active Substance: CALCITONIN
     Dosage: UNK
     Route: 065
  253. CALCITONIN [Concomitant]
     Active Substance: CALCITONIN
     Dosage: UNK
     Route: 065
  254. CALCITONIN [Concomitant]
     Active Substance: CALCITONIN
     Dosage: UNK
     Route: 065
  255. CALCITONIN [Concomitant]
     Active Substance: CALCITONIN
     Dosage: UNK
     Route: 065
  256. VALACYCLOVIR HYDROCHLORIDE [Concomitant]
     Active Substance: VALACYCLOVIR HYDROCHLORIDE
     Indication: Prophylaxis
     Dosage: 500 MILLIGRAM, OD
     Route: 048
     Dates: start: 20190817
  257. VALACYCLOVIR HYDROCHLORIDE [Concomitant]
     Active Substance: VALACYCLOVIR HYDROCHLORIDE
     Dosage: 500 MILLIGRAM, QD
  258. BEMIN [THIAMINE HYDROCHLORIDE] [Concomitant]
     Indication: Product used for unknown indication
     Dosage: 300 MILLIGRAM
     Route: 048
     Dates: start: 20190105, end: 20190112
  259. ASPIRIN [Concomitant]
     Active Substance: ASPIRIN
     Indication: Prophylaxis
     Dosage: 75 MILLIGRAM, QD
     Route: 048
  260. ASPIRIN [Concomitant]
     Active Substance: ASPIRIN
     Indication: Anaemia
     Dosage: UNK
     Route: 065
  261. ASPIRIN [Concomitant]
     Active Substance: ASPIRIN
     Dosage: 75 MILLIGRAM, QD
     Route: 048
  262. ASPIRIN [Concomitant]
     Active Substance: ASPIRIN
     Dosage: UNK
     Route: 065
  263. ASPIRIN [Concomitant]
     Active Substance: ASPIRIN
     Dosage: 75 MILLIGRAM, QD
     Route: 048
  264. ASPIRIN [Concomitant]
     Active Substance: ASPIRIN
     Dosage: 75 MG, QD
     Route: 048
  265. ASPIRIN [Concomitant]
     Active Substance: ASPIRIN
     Dosage: 75 MG, QD
     Route: 048
  266. ASPIRIN [Concomitant]
     Active Substance: ASPIRIN
     Dosage: 75 MG, QD
     Route: 048
  267. ASPIRIN [Concomitant]
     Active Substance: ASPIRIN
     Dosage: 75 MG, QD
     Route: 048
  268. ASPIRIN [Concomitant]
     Active Substance: ASPIRIN
     Dosage: 75 MILLIGRAM, QD
     Route: 048
  269. ASPIRIN [Concomitant]
     Active Substance: ASPIRIN
     Dosage: UNK
     Route: 065
  270. ASPIRIN [Concomitant]
     Active Substance: ASPIRIN
     Dosage: 75 MG, QD
     Route: 048
  271. ASPIRIN [Concomitant]
     Active Substance: ASPIRIN
     Dosage: 75 MG, QD
     Route: 048
  272. ASPIRIN [Concomitant]
     Active Substance: ASPIRIN
     Dosage: UNK
     Route: 065
  273. ASPIRIN [Concomitant]
     Active Substance: ASPIRIN
     Dosage: 75 MILLIGRAM, QD
     Route: 048
  274. ASPIRIN [Concomitant]
     Active Substance: ASPIRIN
     Dosage: 75 MG, QD
     Route: 048
  275. ASPIRIN [Concomitant]
     Active Substance: ASPIRIN
     Dosage: 75 MG, QD
     Route: 048
  276. ASPIRIN [Concomitant]
     Active Substance: ASPIRIN
     Dosage: UNK
     Route: 065
  277. ASPIRIN [Concomitant]
     Active Substance: ASPIRIN
     Dosage: 75 MILLIGRAM, QD
     Route: 048
  278. ASPIRIN [Concomitant]
     Active Substance: ASPIRIN
     Dosage: UNK
     Route: 065
  279. ASPIRIN [Concomitant]
     Active Substance: ASPIRIN
     Dosage: 75 MILLIGRAM, QD
     Route: 048
  280. SULFAMETHOXAZOLE\TRIMETHOPRIM [Concomitant]
     Active Substance: SULFAMETHOXAZOLE\TRIMETHOPRIM
     Indication: Prophylaxis
     Dosage: 20 MILLILITER, QD
     Route: 048
     Dates: start: 20190102, end: 20191015
  281. SULFAMETHOXAZOLE\TRIMETHOPRIM [Concomitant]
     Active Substance: SULFAMETHOXAZOLE\TRIMETHOPRIM
     Indication: Prophylaxis
     Dosage: 10 MILLILITER, QD
     Route: 048
     Dates: start: 20191011
  282. MAGLAX [MAGNESIUM OXIDE] [Concomitant]
     Indication: Malnutrition
     Dosage: UNK
     Route: 048
  283. MAGLAX [MAGNESIUM OXIDE] [Concomitant]
     Dosage: UNK UNK, BID
     Route: 048
     Dates: start: 20190103, end: 20191011
  284. MAGLAX [MAGNESIUM OXIDE] [Concomitant]
     Dosage: UNK
     Route: 065
  285. MAGLAX [MAGNESIUM OXIDE] [Concomitant]
     Dosage: UNK
     Route: 065
  286. MAGLAX [MAGNESIUM OXIDE] [Concomitant]
     Dosage: UNK, UNK, QD
     Route: 048
     Dates: start: 20190103, end: 20191011
  287. MAGLAX [MAGNESIUM OXIDE] [Concomitant]
     Dosage: UNK, UNK, QD
     Route: 048
     Dates: start: 20190103, end: 20191011
  288. MAGNESIUM [Concomitant]
     Active Substance: MAGNESIUM
     Indication: Product used for unknown indication
     Dosage: UNK
     Route: 048
     Dates: start: 20190105, end: 20190112
  289. CARBOHYDRATES\FATTY ACIDS\MINERALS\PROTEIN\VITAMINS [Concomitant]
     Active Substance: CARBOHYDRATES\FATTY ACIDS\MINERALS\PROTEIN\VITAMINS
     Indication: Malnutrition
     Dosage: UNK UNK, BID
     Route: 048
     Dates: start: 20190103, end: 20191011
  290. CARBOHYDRATES\FATTY ACIDS\MINERALS\PROTEIN\VITAMINS [Concomitant]
     Active Substance: CARBOHYDRATES\FATTY ACIDS\MINERALS\PROTEIN\VITAMINS
     Indication: Malnutrition
     Dosage: UNK, QD
     Route: 048
     Dates: start: 20190103, end: 20191011
  291. CARBOHYDRATES\FATTY ACIDS\MINERALS\PROTEIN\VITAMINS [Concomitant]
     Active Substance: CARBOHYDRATES\FATTY ACIDS\MINERALS\PROTEIN\VITAMINS
     Dosage: UNK UNK, QD
     Route: 048
     Dates: start: 20190102, end: 20191029
  292. CARBOHYDRATES\FATTY ACIDS\MINERALS\PROTEIN\VITAMINS [Concomitant]
     Active Substance: CARBOHYDRATES\FATTY ACIDS\MINERALS\PROTEIN\VITAMINS
     Dosage: 2 DOSAGE FORM, QD
     Route: 048
     Dates: start: 20190103, end: 20191011
  293. CARBOHYDRATES\FATTY ACIDS\MINERALS\PROTEIN\VITAMINS [Concomitant]
     Active Substance: CARBOHYDRATES\FATTY ACIDS\MINERALS\PROTEIN\VITAMINS
     Dosage: UNK
     Route: 065
  294. CARBOHYDRATES\FATTY ACIDS\MINERALS\PROTEIN\VITAMINS [Concomitant]
     Active Substance: CARBOHYDRATES\FATTY ACIDS\MINERALS\PROTEIN\VITAMINS
     Dosage: UNK
     Route: 065
  295. CARBOHYDRATES\FATTY ACIDS\MINERALS\PROTEIN\VITAMINS [Concomitant]
     Active Substance: CARBOHYDRATES\FATTY ACIDS\MINERALS\PROTEIN\VITAMINS
     Dosage: UNK
     Route: 065
  296. CARBOHYDRATES\FATTY ACIDS\MINERALS\PROTEIN\VITAMINS [Concomitant]
     Active Substance: CARBOHYDRATES\FATTY ACIDS\MINERALS\PROTEIN\VITAMINS
     Dosage: UNK
     Route: 065
  297. AUGMENTIN [Concomitant]
     Active Substance: AMOXICILLIN\CLAVULANATE POTASSIUM
     Indication: Product used for unknown indication
     Dosage: 1.2 GRAM
     Route: 042
     Dates: start: 20190102, end: 20190103
  298. AUGMENTIN [Concomitant]
     Active Substance: AMOXICILLIN\CLAVULANATE POTASSIUM
     Dosage: 625 MILLIGRAM
     Route: 048
     Dates: start: 20190103, end: 20190106
  299. CLARITHROMYCIN [Concomitant]
     Active Substance: CLARITHROMYCIN
     Indication: Product used for unknown indication
     Dosage: 500 MILLIGRAM
     Route: 048
     Dates: start: 20190106, end: 20190109
  300. INFLUENZA VIRUS VACCINE [Concomitant]
     Active Substance: INFLUENZA VIRUS VACCINE
     Indication: Prophylaxis
     Dosage: UNK
     Route: 065
  301. INFLUENZA VIRUS VACCINE [Concomitant]
     Active Substance: INFLUENZA VIRUS VACCINE
     Dosage: 1 DOSAGE FORM (1 AMPULE), OD,
     Route: 065
     Dates: start: 20191112, end: 20191112
  302. INFLUENZA VIRUS VACCINE [Concomitant]
     Active Substance: INFLUENZA VIRUS VACCINE
     Dosage: UNK
     Route: 065
  303. INFLUENZA VIRUS VACCINE [Concomitant]
     Active Substance: INFLUENZA VIRUS VACCINE
     Dosage: UNK
     Route: 065
  304. COTRIMOXAZOLE [Concomitant]
     Active Substance: SULFAMETHOXAZOLE\TRIMETHOPRIM
     Indication: Antifungal prophylaxis
     Dosage: 480 MILLIGRAM, OD
     Route: 048
     Dates: start: 20180817, end: 20191015
  305. COTRIMOXAZOLE [Concomitant]
     Active Substance: SULFAMETHOXAZOLE\TRIMETHOPRIM
     Indication: Antifungal prophylaxis
     Dosage: 480 MILLIGRAM, OD
     Route: 048
     Dates: start: 20180817, end: 20191015
  306. ZINC SULFATE [Concomitant]
     Active Substance: ZINC SULFATE
     Indication: Malnutrition
     Dosage: UNK, BID
     Route: 048
     Dates: start: 20190103, end: 20191011
  307. ZINC SULFATE [Concomitant]
     Active Substance: ZINC SULFATE
     Dosage: UNK
     Route: 065
  308. ZINC SULFATE [Concomitant]
     Active Substance: ZINC SULFATE
     Dosage: UNK
     Route: 065
  309. ZINC SULFATE [Concomitant]
     Active Substance: ZINC SULFATE
     Dosage: UNK
     Route: 065
  310. PIPERACILLIN SODIUM\TAZOBACTAM SODIUM [Concomitant]
     Active Substance: PIPERACILLIN SODIUM\TAZOBACTAM SODIUM
     Indication: Product used for unknown indication
     Dosage: 4.5 GRAM
     Route: 042
     Dates: start: 20190106, end: 20190110
  311. CALCIUM ACETATE [Concomitant]
     Active Substance: CALCIUM ACETATE
     Indication: Malnutrition
     Dosage: UNK, BID
     Route: 048
     Dates: start: 20191003, end: 20191011
  312. CALCIUM ACETATE [Concomitant]
     Active Substance: CALCIUM ACETATE
     Dosage: UNK, QD
     Route: 048
     Dates: start: 20191020, end: 20191029
  313. CALCITONIN SALMON [Concomitant]
     Active Substance: CALCITONIN SALMON
     Indication: Malnutrition
     Dosage: UNK, QD
     Route: 048
     Dates: start: 20190103, end: 20191011
  314. CALCITONIN SALMON [Concomitant]
     Active Substance: CALCITONIN SALMON
     Dosage: UNK, QD
     Route: 048
     Dates: start: 20190103, end: 20191011
  315. CALCITONIN SALMON [Concomitant]
     Active Substance: CALCITONIN SALMON
     Dosage: UNK
     Route: 048
     Dates: start: 20191020, end: 20191029
  316. CALCITONIN SALMON [Concomitant]
     Active Substance: CALCITONIN SALMON
     Dosage: UNK
     Route: 065
  317. CALCITONIN SALMON [Concomitant]
     Active Substance: CALCITONIN SALMON
     Dosage: UNK, BID
     Route: 048
     Dates: start: 20190103, end: 20191011
  318. CALCITONIN SALMON [Concomitant]
     Active Substance: CALCITONIN SALMON
     Dosage: UNK
     Route: 065
  319. CALCITONIN SALMON [Concomitant]
     Active Substance: CALCITONIN SALMON
     Dosage: UNK
     Route: 065
  320. XYLOCAINA [LIDOCAINE] [Concomitant]
     Indication: Tongue coated
     Dosage: 10 MILLILITER, TID
     Route: 048
     Dates: start: 20191116, end: 20191220
  321. XYLOCAINA [LIDOCAINE] [Concomitant]
     Dosage: 30 MILLILITER
     Route: 048
     Dates: start: 20191116, end: 20191220
  322. XYLOCAINA [LIDOCAINE] [Concomitant]
     Dosage: UNK, OD
     Route: 048
     Dates: start: 20190103, end: 20191011
  323. XYLOCAINA [LIDOCAINE] [Concomitant]
     Dosage: 90 ML, QD, (30 MILLILITER, TID)
     Route: 048
     Dates: start: 20191116, end: 20191220
  324. CHLORHEXIDINE [Concomitant]
     Active Substance: CHLORHEXIDINE
     Indication: Tongue coated
     Dosage: 10 MILLILITER, TID (30 MILLILITER)
     Route: 048
     Dates: start: 20191116, end: 20191220
  325. CORVITOL [METOPROLOL] [Concomitant]
     Indication: Hypertension
     Dosage: 25 MILLIGRAM, BID (1 DOSE 12 HOURS)
     Route: 048
  326. CORVITOL [METOPROLOL] [Concomitant]
     Indication: Product used for unknown indication
     Dosage: 25 MILLIGRAM
     Route: 048
  327. CORVITOL [METOPROLOL] [Concomitant]
     Dosage: 25 MILLIGRAM
     Route: 048
  328. CORVITOL [METOPROLOL] [Concomitant]
     Dosage: 50 MILLIGRAM, QD
     Route: 048
  329. CORVITOL [METOPROLOL] [Concomitant]
     Dosage: 50 MILLIGRAM, QD
     Route: 048
  330. CORVITOL [METOPROLOL] [Concomitant]
     Dosage: 50 MILLIGRAM, QD
     Route: 048
  331. CORVITOL [METOPROLOL] [Concomitant]
     Dosage: 25 MILLIGRAM
     Route: 048
  332. CORVITOL [METOPROLOL] [Concomitant]
     Dosage: 50 MILLIGRAM, QD
     Route: 065
  333. CORVITOL [METOPROLOL] [Concomitant]
     Dosage: 50 MILLIGRAM, BID
     Route: 048
  334. CORVITOL [METOPROLOL] [Concomitant]
     Dosage: 50 MILLIGRAM, QD
     Route: 065
  335. CORVITOL [METOPROLOL] [Concomitant]
     Dosage: 50 MILLIGRAM, QD
     Route: 048
  336. CORVITOL [METOPROLOL] [Concomitant]
     Dosage: 50 MILLIGRAM, QD
     Route: 048
  337. CORVITOL [METOPROLOL] [Concomitant]
     Dosage: 25 MILLIGRAM
     Route: 048
  338. CORVITOL [METOPROLOL] [Concomitant]
     Dosage: 25 MILLIGRAM, BID (1 DOSE 12 HOURS)
     Route: 048
  339. CORVITOL [METOPROLOL] [Concomitant]
     Dosage: 50 MILLIGRAM, QD
     Route: 048
  340. CORVITOL [METOPROLOL] [Concomitant]
     Dosage: 25 MILLIGRAM
     Route: 048
  341. CORVITOL [METOPROLOL] [Concomitant]
     Dosage: 50 MILLIGRAM, QD
     Route: 048
  342. CORVITOL [METOPROLOL] [Concomitant]
     Dosage: 50 MILLIGRAM, QD
     Route: 048
  343. CORVITOL [METOPROLOL] [Concomitant]
     Dosage: 25 MG
     Route: 048
  344. CORVITOL [METOPROLOL] [Concomitant]
     Dosage: 25 MG, BID
     Route: 048
  345. CORVITOL [METOPROLOL] [Concomitant]
     Dosage: 50 MG, QD
     Route: 048
  346. CORVITOL [METOPROLOL] [Concomitant]
     Dosage: 25 MG, BID (25 MG, 1 DOSE 12 HOURS)
     Route: 048
  347. CORVITOL [METOPROLOL] [Concomitant]
     Dosage: 50 MG, QD
     Route: 048
  348. CORVITOL [METOPROLOL] [Concomitant]
     Dosage: 50 MG, QD
     Route: 048
  349. CORVITOL [METOPROLOL] [Concomitant]
     Dosage: 25 MG (1 DOSE, 12 HRS)
     Route: 048
  350. CORVITOL [METOPROLOL] [Concomitant]
     Dosage: 50 MILLIGRAM
     Route: 048
  351. CORVITOL [METOPROLOL] [Concomitant]
     Dosage: 50 MG, QD
     Route: 048
  352. CORVITOL [METOPROLOL] [Concomitant]
     Dosage: 25 MG (1 DOSE, 12 HRS)
     Route: 048
  353. CORVITOL [METOPROLOL] [Concomitant]
     Dosage: 25 MILLIGRAM, BID
     Route: 048
  354. CORVITOL [METOPROLOL] [Concomitant]
     Dosage: 50 MILLIGRAM, QD
     Route: 048
  355. CORVITOL [METOPROLOL] [Concomitant]
     Dosage: 50 MILLIGRAM, QD
     Route: 048
  356. CORVITOL [METOPROLOL] [Concomitant]
     Dosage: 50 MILLIGRAM, QD
     Route: 048
  357. CORVITOL [METOPROLOL] [Concomitant]
     Dosage: 25 MILLIGRAM, BID
     Route: 048
  358. CORVITOL [METOPROLOL] [Concomitant]
     Dosage: 50 MILLIGRAM, QD
     Route: 048
  359. CORVITOL [METOPROLOL] [Concomitant]
     Dosage: 25 MILLIGRAM, BID
     Route: 048
  360. CORVITOL [METOPROLOL] [Concomitant]
     Dosage: 25 MILLIGRAM, BID
     Route: 048
  361. CORVITOL [METOPROLOL] [Concomitant]
     Dosage: 50 MG, QD
     Route: 048
  362. CORVITOL [METOPROLOL] [Concomitant]
     Dosage: 25 MG
     Route: 048
  363. CORVITOL [METOPROLOL] [Concomitant]
     Dosage: 25 MG, Q12H
     Route: 048
  364. CORVITOL [METOPROLOL] [Concomitant]
     Dosage: 50 MG, QD, (25 MG, BID)
     Route: 048
  365. CORVITOL [METOPROLOL] [Concomitant]
     Dosage: 50 MG, QD
     Route: 048
  366. CORVITOL [METOPROLOL] [Concomitant]
     Dosage: 50 MG, QD
     Route: 048
  367. CORVITOL [METOPROLOL] [Concomitant]
     Dosage: 50 MG, QD
     Route: 048
  368. CORVITOL [METOPROLOL] [Concomitant]
     Dosage: 50 MG, QD
     Route: 048
  369. CORVITOL [METOPROLOL] [Concomitant]
     Dosage: 25 MG, BID
     Route: 048
  370. CORVITOL [METOPROLOL] [Concomitant]
     Dosage: 25 MG, BID (25 MG, 1 DOSE 12 HOURS)
     Route: 048
  371. CORVITOL [METOPROLOL] [Concomitant]
     Dosage: 50 MG, QD
     Route: 048
  372. CORVITOL [METOPROLOL] [Concomitant]
     Dosage: 25 MG
     Route: 048
  373. CORVITOL [METOPROLOL] [Concomitant]
     Route: 065
  374. CORVITOL [METOPROLOL] [Concomitant]
     Route: 065
  375. CORVITOL [METOPROLOL] [Concomitant]
     Dosage: 50 MG, QD
     Route: 048
  376. CORVITOL [METOPROLOL] [Concomitant]
     Dosage: 50 MG, QD, (25 MG, BID)
     Route: 048
  377. CORVITOL [METOPROLOL] [Concomitant]
     Dosage: 25 MG
     Route: 048
  378. CORVITOL [METOPROLOL] [Concomitant]
     Dosage: 50 MG, QD
     Route: 048
  379. CORVITOL [METOPROLOL] [Concomitant]
     Dosage: 25 MG, Q12H
     Route: 048
  380. CORVITOL [METOPROLOL] [Concomitant]
     Dosage: 50 MG, QD
     Route: 048
  381. CORVITOL [METOPROLOL] [Concomitant]
     Dosage: 50 MG, QD
     Route: 048
  382. CORVITOL [METOPROLOL] [Concomitant]
     Dosage: 50 MG, QD
     Route: 048
  383. CORVITOL [METOPROLOL] [Concomitant]
     Dosage: 50 MG, QD
     Route: 048
  384. CORVITOL [METOPROLOL] [Concomitant]
     Dosage: 25 MG, BID
     Route: 048
  385. CORVITOL [METOPROLOL] [Concomitant]
     Dosage: 25 MG, BID (25 MG, 1 DOSE 12 HOURS)
     Route: 048
  386. CORVITOL [METOPROLOL] [Concomitant]
     Dosage: 25 MG
     Route: 048
  387. CORVITOL [METOPROLOL] [Concomitant]
     Dosage: 50 MILLIGRAM, QD
     Route: 048
  388. CORVITOL [METOPROLOL] [Concomitant]
     Dosage: 50 MILLIGRAM, QD
     Route: 048
  389. CORVITOL [METOPROLOL] [Concomitant]
     Dosage: 50 MILLIGRAM, QD
     Route: 065
  390. CORVITOL [METOPROLOL] [Concomitant]
     Dosage: 25 MILLIGRAM, BID (1 DOSE 12 HOURS)
     Route: 048
  391. CORVITOL [METOPROLOL] [Concomitant]
     Dosage: 50 MILLIGRAM, QD
     Route: 048
  392. CORVITOL [METOPROLOL] [Concomitant]
     Dosage: 25 MILLIGRAM
     Route: 048
  393. CORVITOL [METOPROLOL] [Concomitant]
     Dosage: 50 MG, QD
     Route: 048
  394. CORVITOL [METOPROLOL] [Concomitant]
     Dosage: 25 MG
     Route: 048
  395. CORVITOL [METOPROLOL] [Concomitant]
     Dosage: 25 MG, BID (25 MG, 1 DOSE 12 HOURS)
     Route: 048
  396. CORVITOL [METOPROLOL] [Concomitant]
     Dosage: 50 MG, QD
     Route: 048
  397. CORVITOL [METOPROLOL] [Concomitant]
     Dosage: 50 MG, QD
     Route: 048
  398. CORVITOL [METOPROLOL] [Concomitant]
     Dosage: 25 MG, BID
     Route: 048
  399. CORVITOL [METOPROLOL] [Concomitant]
     Dosage: 50 MG, QD
     Route: 048
  400. CORVITOL [METOPROLOL] [Concomitant]
     Dosage: 50 MG, QD
     Route: 048
  401. CORVITOL [METOPROLOL] [Concomitant]
     Dosage: 50 MG, QD
     Route: 048
  402. CORVITOL [METOPROLOL] [Concomitant]
     Dosage: 25 MG (1 DOSE, 12 HRS)
     Route: 048
  403. CORVITOL [METOPROLOL] [Concomitant]
     Dosage: 25 MILLIGRAM
     Route: 048
  404. CORVITOL [METOPROLOL] [Concomitant]
     Dosage: 25 MILLIGRAM, BID (1 DOSE 12 HOURS)
     Route: 048
  405. CORVITOL [METOPROLOL] [Concomitant]
     Dosage: 50 MILLIGRAM, QD
     Route: 048
  406. CORVITOL [METOPROLOL] [Concomitant]
     Dosage: 50 MILLIGRAM, QD
     Route: 048
  407. CORVITOL [METOPROLOL] [Concomitant]
     Dosage: 50 MILLIGRAM, QD
     Route: 065
  408. CORVITOL [METOPROLOL] [Concomitant]
     Dosage: 50 MILLIGRAM, QD
     Route: 048
  409. CORVITOL [METOPROLOL] [Concomitant]
     Dosage: 25 MG, Q12H
     Route: 048
  410. CORVITOL [METOPROLOL] [Concomitant]
     Dosage: 50 MG, QD, (25 MG, BID)
     Route: 048
  411. CORVITOL [METOPROLOL] [Concomitant]
     Dosage: 50 MG, QD
     Route: 048
  412. CORVITOL [METOPROLOL] [Concomitant]
     Dosage: 25 MG
     Route: 048
  413. CORVITOL [METOPROLOL] [Concomitant]
     Dosage: 50 MG, QD
     Route: 048
  414. CORVITOL [METOPROLOL] [Concomitant]
     Dosage: 50 MG, QD
     Route: 048
  415. CORVITOL [METOPROLOL] [Concomitant]
     Dosage: 25 MG, Q12H
     Route: 048
  416. CORVITOL [METOPROLOL] [Concomitant]
     Dosage: 25 MG
     Route: 048
  417. CORVITOL [METOPROLOL] [Concomitant]
     Dosage: 50 MG, QD
     Route: 048
  418. CORVITOL [METOPROLOL] [Concomitant]
     Dosage: 50 MG, QD, (25 MG, BID)
     Route: 048
  419. CORVITOL [METOPROLOL] [Concomitant]
     Dosage: 50 MG, QD
     Route: 048
  420. CORVITOL [METOPROLOL] [Concomitant]
     Dosage: 50 MG, QD
     Route: 048
  421. CORVITOL [METOPROLOL] [Concomitant]
     Dosage: 50 MILLIGRAM, QD
     Route: 048
  422. CORVITOL [METOPROLOL] [Concomitant]
     Dosage: 50 MILLIGRAM, QD
     Route: 065
  423. CORVITOL [METOPROLOL] [Concomitant]
     Dosage: 25 MILLIGRAM, BID (1 DOSE 12 HOURS)
     Route: 048
  424. CORVITOL [METOPROLOL] [Concomitant]
     Dosage: 50 MILLIGRAM, QD
     Route: 048
  425. CORVITOL [METOPROLOL] [Concomitant]
     Dosage: 25 MILLIGRAM
     Route: 048
  426. CORVITOL [METOPROLOL] [Concomitant]
     Dosage: 50 MILLIGRAM, QD
     Route: 048
  427. CORVITOL [METOPROLOL] [Concomitant]
     Dosage: 25 MILLIGRAM
     Route: 048
  428. CORVITOL [METOPROLOL] [Concomitant]
     Dosage: 50 MILLIGRAM, QD
     Route: 048
  429. CORVITOL [METOPROLOL] [Concomitant]
     Dosage: 50 MILLIGRAM, QD
     Route: 065
  430. CORVITOL [METOPROLOL] [Concomitant]
     Dosage: 50 MILLIGRAM, BID
     Route: 048
  431. CORVITOL [METOPROLOL] [Concomitant]
     Dosage: 25 MILLIGRAM
     Route: 048
  432. CORVITOL [METOPROLOL] [Concomitant]
     Dosage: 50 MILLIGRAM, QD
     Route: 048
  433. CORVITOL [METOPROLOL] [Concomitant]
     Dosage: 50 MILLIGRAM, QD
     Route: 048
  434. CORVITOL [METOPROLOL] [Concomitant]
     Dosage: 25 MILLIGRAM
     Route: 048
  435. CORVITOL [METOPROLOL] [Concomitant]
     Dosage: 25 MILLIGRAM, BID (1 DOSE 12 HOURS)
     Route: 048
  436. CORVITOL [METOPROLOL] [Concomitant]
     Dosage: 50 MILLIGRAM, QD
  437. CORVITOL [METOPROLOL] [Concomitant]
     Dosage: 50 MILLIGRAM, QD
  438. CORVITOL [METOPROLOL] [Concomitant]
     Dosage: 25 MILLIGRAM, BID
  439. CORVITOL [METOPROLOL] [Concomitant]
     Dosage: 25 MILLIGRAM, BID
  440. CORVITOL [METOPROLOL] [Concomitant]
     Dosage: 50 MILLIGRAM, QD
  441. CORVITOL [METOPROLOL] [Concomitant]
     Dosage: 25 MILLIGRAM, BID
  442. TRIMETHOPRIM [Concomitant]
     Active Substance: TRIMETHOPRIM
     Indication: Antifungal prophylaxis
     Dosage: UNK
     Route: 065
     Dates: start: 20191011
  443. TRIMETHOPRIM [Concomitant]
     Active Substance: TRIMETHOPRIM
     Indication: Prophylaxis
     Dosage: 10 MILLILITER
     Route: 048
     Dates: start: 20191011
  444. TRIMETHOPRIM [Concomitant]
     Active Substance: TRIMETHOPRIM
     Dosage: 480 MILLIGRAM, QD
     Route: 048
     Dates: start: 20191011
  445. TRIMETHOPRIM [Concomitant]
     Active Substance: TRIMETHOPRIM
     Dosage: 480 MILLIGRAM, QD
     Route: 048
     Dates: start: 20180817, end: 20191015
  446. TRIMETHOPRIM [Concomitant]
     Active Substance: TRIMETHOPRIM
     Dosage: 480 MILLIGRAM, QD
     Route: 048
  447. TRIMETHOPRIM [Concomitant]
     Active Substance: TRIMETHOPRIM
     Dosage: 20 MILLILITRE, QD
     Route: 048
     Dates: start: 20190102, end: 20191015
  448. TRIMETHOPRIM [Concomitant]
     Active Substance: TRIMETHOPRIM
     Dosage: 480 MILLIGRAM, QD
     Route: 048
  449. TRIMETHOPRIM [Concomitant]
     Active Substance: TRIMETHOPRIM
     Dosage: 480 MILLIGRAM, QD
     Route: 048
  450. TRIMETHOPRIM [Concomitant]
     Active Substance: TRIMETHOPRIM
     Dosage: 480 MG, QD
     Route: 048
  451. TRIMETHOPRIM [Concomitant]
     Active Substance: TRIMETHOPRIM
     Dosage: 480 MG, QD
     Route: 048
  452. TRIMETHOPRIM [Concomitant]
     Active Substance: TRIMETHOPRIM
     Dosage: 480 MG, QD
     Route: 048
  453. TRIMETHOPRIM [Concomitant]
     Active Substance: TRIMETHOPRIM
     Dosage: 480 MG, QD
     Route: 048
  454. TRIMETHOPRIM [Concomitant]
     Active Substance: TRIMETHOPRIM
     Dosage: 480 MG, QD
     Route: 048
  455. TRIMETHOPRIM [Concomitant]
     Active Substance: TRIMETHOPRIM
     Dosage: 480 MG, QD
     Route: 048
  456. TRIMETHOPRIM [Concomitant]
     Active Substance: TRIMETHOPRIM
     Dosage: 480 MG, QD
     Route: 048
  457. TRIMETHOPRIM [Concomitant]
     Active Substance: TRIMETHOPRIM
     Dosage: 480 MILLIGRAM, QD
     Route: 048
  458. TRIMETHOPRIM [Concomitant]
     Active Substance: TRIMETHOPRIM
     Dosage: 480 MG, QD
     Route: 048
  459. TRIMETHOPRIM [Concomitant]
     Active Substance: TRIMETHOPRIM
     Dosage: 480 MG, QD
     Route: 048
  460. TRIMETHOPRIM [Concomitant]
     Active Substance: TRIMETHOPRIM
     Dosage: 480 MILLIGRAM, QD
     Route: 048
  461. TRIMETHOPRIM [Concomitant]
     Active Substance: TRIMETHOPRIM
     Dosage: 480 MG, QD
     Route: 048
  462. TRIMETHOPRIM [Concomitant]
     Active Substance: TRIMETHOPRIM
     Dosage: 480 MG, QD
     Route: 048
  463. TRIMETHOPRIM [Concomitant]
     Active Substance: TRIMETHOPRIM
     Dosage: 480 MILLIGRAM, QD
     Route: 048
  464. TRIMETHOPRIM [Concomitant]
     Active Substance: TRIMETHOPRIM
     Dosage: 480 MILLIGRAM, QD
     Route: 048
  465. MAGNESIUM SULFATE [Concomitant]
     Active Substance: MAGNESIUM SULFATE
     Indication: Malnutrition
     Dosage: UNK, QD
     Route: 048
     Dates: start: 20190103, end: 20191011
  466. MAGNESIUM SULFATE [Concomitant]
     Active Substance: MAGNESIUM SULFATE
     Dosage: UNK
     Route: 065
  467. MAGNESIUM SULFATE [Concomitant]
     Active Substance: MAGNESIUM SULFATE
     Dosage: UNK, BID
     Route: 048
     Dates: start: 20190103, end: 20191011
  468. BUDESONIDE [Concomitant]
     Active Substance: BUDESONIDE
     Indication: Chronic obstructive pulmonary disease
     Dosage: 1 MILLIGRAM, QD
     Route: 048
     Dates: start: 20200107
  469. SODIUM FLUORIDE [Concomitant]
     Active Substance: SODIUM FLUORIDE
     Indication: Malnutrition
     Dosage: 90 MILLILITRE, QD
     Route: 048
     Dates: start: 20190103
  470. SODIUM FLUORIDE [Concomitant]
     Active Substance: SODIUM FLUORIDE
     Dosage: UNK
     Route: 065
  471. SODIUM FLUORIDE [Concomitant]
     Active Substance: SODIUM FLUORIDE
     Dosage: 90 MILLILITRE, QD
     Route: 048
     Dates: start: 20190103
  472. SODIUM FLUORIDE [Concomitant]
     Active Substance: SODIUM FLUORIDE
     Dosage: UNK
     Route: 065
  473. SODIUM FLUORIDE [Concomitant]
     Active Substance: SODIUM FLUORIDE
     Dosage: UNK
     Route: 065
  474. SODIUM FLUORIDE [Concomitant]
     Active Substance: SODIUM FLUORIDE
     Dosage: UNK
     Route: 065
  475. SODIUM FLUORIDE [Concomitant]
     Active Substance: SODIUM FLUORIDE
     Dosage: UNK
     Route: 065
  476. SODIUM FLUORIDE [Concomitant]
     Active Substance: SODIUM FLUORIDE
     Dosage: UNK
     Route: 065
  477. SODIUM FLUORIDE [Concomitant]
     Active Substance: SODIUM FLUORIDE
     Dosage: UNK
     Route: 065
  478. SODIUM FLUORIDE [Concomitant]
     Active Substance: SODIUM FLUORIDE
     Dosage: UNK
     Route: 065
  479. SODIUM FLUORIDE [Concomitant]
     Active Substance: SODIUM FLUORIDE
     Dosage: UNK
     Route: 065
  480. SODIUM FLUORIDE [Concomitant]
     Active Substance: SODIUM FLUORIDE
     Dosage: UNK
     Route: 065
  481. SODIUM FLUORIDE [Concomitant]
     Active Substance: SODIUM FLUORIDE
     Dosage: UNK
     Route: 065
  482. SODIUM FLUORIDE [Concomitant]
     Active Substance: SODIUM FLUORIDE
     Dosage: UNK
     Route: 065
  483. SODIUM FLUORIDE [Concomitant]
     Active Substance: SODIUM FLUORIDE
     Dosage: UNK
     Route: 065
  484. SODIUM FLUORIDE [Concomitant]
     Active Substance: SODIUM FLUORIDE
     Dosage: UNK
     Route: 065
  485. CALCIUM\CHOLECALCIFEROL [Concomitant]
     Active Substance: CALCIUM\CHOLECALCIFEROL
     Indication: Bone disorder
     Dosage: UNK UNK, QD
     Route: 048
     Dates: start: 20191016, end: 20191029
  486. CALCIUM\CHOLECALCIFEROL [Concomitant]
     Active Substance: CALCIUM\CHOLECALCIFEROL
     Indication: Prophylaxis
     Dosage: 8 DOSAGE FORM, QD
     Route: 048
     Dates: start: 20190103, end: 20191011
  487. CALCIUM\CHOLECALCIFEROL [Concomitant]
     Active Substance: CALCIUM\CHOLECALCIFEROL
     Indication: Bone disorder
     Dosage: 2 DOSAGE FORM, QD
     Route: 048
     Dates: start: 20190103, end: 20191011
  488. CALCIUM\CHOLECALCIFEROL [Concomitant]
     Active Substance: CALCIUM\CHOLECALCIFEROL
     Indication: Prophylaxis
     Dosage: UNK UNK, QD
     Route: 048
     Dates: start: 20191016, end: 20191029
  489. CALCIUM\CHOLECALCIFEROL [Concomitant]
     Active Substance: CALCIUM\CHOLECALCIFEROL
     Indication: Prophylaxis
     Dosage: UNK UNK, BID
     Route: 048
     Dates: start: 20190103, end: 20190211
  490. CALCIUM\CHOLECALCIFEROL [Concomitant]
     Active Substance: CALCIUM\CHOLECALCIFEROL
     Indication: Prophylaxis
     Dosage: 2 DOSAGE FORM, BID, 2 TABLET (4 DOSAGE FORM, QD)
     Route: 048
     Dates: start: 20190212, end: 20191015
  491. CALCIUM\CHOLECALCIFEROL [Concomitant]
     Active Substance: CALCIUM\CHOLECALCIFEROL
     Dosage: UNK, QD
     Route: 048
     Dates: start: 20190103, end: 20190211
  492. CALCIUM\CHOLECALCIFEROL [Concomitant]
     Active Substance: CALCIUM\CHOLECALCIFEROL
     Dosage: 2 DOSAGE FORM, TID, 2 TABLET
     Route: 048
     Dates: start: 20190103, end: 20190211
  493. CALCIUM\CHOLECALCIFEROL [Concomitant]
     Active Substance: CALCIUM\CHOLECALCIFEROL
     Dosage: 6 DOSAGE FORM, QD (2 TABLET)
     Route: 048
     Dates: start: 20190103, end: 20190211
  494. CALCIUM\CHOLECALCIFEROL [Concomitant]
     Active Substance: CALCIUM\CHOLECALCIFEROL
     Dosage: 2 DOSAGE FORM, BID
     Route: 048
     Dates: start: 20190103, end: 20191011
  495. CALCIUM\CHOLECALCIFEROL [Concomitant]
     Active Substance: CALCIUM\CHOLECALCIFEROL
     Dosage: 6 DOSAGE FORM, TID, 2 TABLET
     Route: 048
     Dates: start: 20190103, end: 20190211
  496. CALCIUM\CHOLECALCIFEROL [Concomitant]
     Active Substance: CALCIUM\CHOLECALCIFEROL
     Dosage: 6 DOSAGE FORM, QD (2 DOSAGE FORM, TID, 2 TABLET)
     Route: 048
     Dates: start: 20190103, end: 20190211
  497. CALCIUM\CHOLECALCIFEROL [Concomitant]
     Active Substance: CALCIUM\CHOLECALCIFEROL
     Dosage: UNK UNK, BID
     Route: 048
     Dates: start: 20190212, end: 20191015
  498. CALCIUM\CHOLECALCIFEROL [Concomitant]
     Active Substance: CALCIUM\CHOLECALCIFEROL
     Dosage: 18 DOSAGE FORM, QD
     Route: 048
     Dates: start: 20190103, end: 20190211
  499. CALCIUM\CHOLECALCIFEROL [Concomitant]
     Active Substance: CALCIUM\CHOLECALCIFEROL
     Dosage: 4 DOSAGE FORM, BID
     Route: 048
     Dates: start: 20190103, end: 20191011
  500. CALCIUM\CHOLECALCIFEROL [Concomitant]
     Active Substance: CALCIUM\CHOLECALCIFEROL
     Dosage: 2 DOSAGE FORM, OD, 2 TABLET
     Route: 048
     Dates: start: 20191016, end: 20191029
  501. CALCIUM\CHOLECALCIFEROL [Concomitant]
     Active Substance: CALCIUM\CHOLECALCIFEROL
     Dosage: UNK UNK, QD
     Dates: start: 201901
  502. CALCIUM\CHOLECALCIFEROL [Concomitant]
     Active Substance: CALCIUM\CHOLECALCIFEROL
     Dosage: UNK, QD
     Dates: start: 20190104
  503. CHOLECALCIFEROL [Concomitant]
     Active Substance: CHOLECALCIFEROL
     Indication: Malnutrition
     Dosage: UNK UNK, BID
     Route: 048
     Dates: start: 20190103, end: 20191011
  504. CHOLECALCIFEROL [Concomitant]
     Active Substance: CHOLECALCIFEROL
     Dosage: UNK
     Route: 048
     Dates: start: 20190212, end: 20191015
  505. CHOLECALCIFEROL [Concomitant]
     Active Substance: CHOLECALCIFEROL
     Dosage: UNK, BID
     Route: 048
     Dates: start: 20190212, end: 20191015
  506. CHOLECALCIFEROL [Concomitant]
     Active Substance: CHOLECALCIFEROL
     Dosage: UNK UNK, BID
     Route: 048
     Dates: start: 20190103, end: 20191011
  507. CHOLECALCIFEROL [Concomitant]
     Active Substance: CHOLECALCIFEROL
     Dosage: UNK
     Route: 065
  508. CHOLECALCIFEROL [Concomitant]
     Active Substance: CHOLECALCIFEROL
     Dosage: UNK UNK, QD
     Route: 048
     Dates: start: 20191016, end: 20191029
  509. CHOLECALCIFEROL [Concomitant]
     Active Substance: CHOLECALCIFEROL
     Dosage: UNK
     Route: 065
  510. CHOLECALCIFEROL [Concomitant]
     Active Substance: CHOLECALCIFEROL
     Dosage: UNK
     Route: 065
  511. CHOLECALCIFEROL [Concomitant]
     Active Substance: CHOLECALCIFEROL
     Dosage: UNK
     Route: 065
  512. CHOLECALCIFEROL [Concomitant]
     Active Substance: CHOLECALCIFEROL
     Dosage: UNK
     Route: 065
  513. CHOLECALCIFEROL [Concomitant]
     Active Substance: CHOLECALCIFEROL
     Dosage: UNK
     Route: 065
  514. CHOLECALCIFEROL [Concomitant]
     Active Substance: CHOLECALCIFEROL
     Dosage: UNK
     Route: 065
  515. CHOLECALCIFEROL [Concomitant]
     Active Substance: CHOLECALCIFEROL
     Dosage: UNK
     Route: 065
  516. CHOLECALCIFEROL [Concomitant]
     Active Substance: CHOLECALCIFEROL
     Dosage: UNK
     Route: 065
  517. MINERALS\VITAMINS [Concomitant]
     Active Substance: MINERALS\VITAMINS
     Indication: Prophylaxis
     Dosage: UNK
     Route: 065
  518. MINERALS\VITAMINS [Concomitant]
     Active Substance: MINERALS\VITAMINS
     Dosage: 1 DOSAGE FORM, QD
     Route: 048
     Dates: start: 20190104
  519. MINERALS\VITAMINS [Concomitant]
     Active Substance: MINERALS\VITAMINS
     Dosage: UNK UNK, QD
     Route: 048
     Dates: start: 20190104
  520. HYPOTEN [AMLODIPINE] [Concomitant]
     Indication: Hypertension
     Dosage: 10 MILLIGRAM, QD
     Route: 048
  521. HYPOTEN [AMLODIPINE] [Concomitant]
     Dosage: 10 MILLIGRAM, QD
     Route: 048
     Dates: end: 20191204
  522. HYPOTEN [AMLODIPINE] [Concomitant]
     Dosage: 10 MILLIGRAM, QD
     Route: 048
     Dates: end: 20191204
  523. HYPOTEN [AMLODIPINE] [Concomitant]
     Dosage: 10 MILLIGRAM, QD
     Route: 048
  524. HYPOTEN [AMLODIPINE] [Concomitant]
     Dosage: 10 MILLIGRAM, QD
     Route: 048
     Dates: start: 20191204
  525. HYPOTEN [AMLODIPINE] [Concomitant]
     Dosage: 10 MILLIGRAM, OD
     Route: 048
     Dates: start: 20191204, end: 20191204
  526. DECAPEPTYL (ACETATE) [Concomitant]
     Active Substance: TRIPTORELIN ACETATE
     Indication: Prostate cancer
     Dosage: UNK
     Route: 065
  527. DECAPEPTYL (ACETATE) [Concomitant]
     Active Substance: TRIPTORELIN ACETATE
     Dosage: 11.25 MILLIGRAM, Q12MO
     Route: 065
     Dates: start: 20190515
  528. DECAPEPTYL (ACETATE) [Concomitant]
     Active Substance: TRIPTORELIN ACETATE
     Dosage: 11.25 MILLIGRAM, QID
     Route: 065
     Dates: start: 20190515
  529. DECAPEPTYL (ACETATE) [Concomitant]
     Active Substance: TRIPTORELIN ACETATE
     Dosage: 18.247 MILLIGRAM
     Route: 065
  530. DECAPEPTYL (ACETATE) [Concomitant]
     Active Substance: TRIPTORELIN ACETATE
     Dosage: 45 MILLIGRAM, QMO (1 DOSE YEARLY, 11.25 MG)
     Route: 065
     Dates: start: 20190515
  531. DECAPEPTYL (ACETATE) [Concomitant]
     Active Substance: TRIPTORELIN ACETATE
     Dosage: UNK
     Route: 065
  532. DECAPEPTYL (ACETATE) [Concomitant]
     Active Substance: TRIPTORELIN ACETATE
     Dosage: 18.247 MILLIGRAM
     Route: 065
  533. DECAPEPTYL (ACETATE) [Concomitant]
     Active Substance: TRIPTORELIN ACETATE
     Dosage: 18.247 MILLIGRAM
     Route: 065
  534. DECAPEPTYL (ACETATE) [Concomitant]
     Active Substance: TRIPTORELIN ACETATE
     Dosage: UNK
     Route: 065
  535. HEXAVIT [VITAMINS NOS] [Concomitant]
     Indication: Prophylaxis
     Dosage: UNK UNK, QD
     Route: 048
     Dates: start: 20190104
  536. HEXAVIT [VITAMINS NOS] [Concomitant]
     Dosage: UNK UNK, QD
     Route: 048
     Dates: start: 20190103, end: 20191111
  537. HEXAVIT [VITAMINS NOS] [Concomitant]
     Dosage: UNK UNK, QD
     Route: 065
     Dates: start: 20190102, end: 20190129
  538. DIPHENHYDRAMINE;RETINOL;TRICLOCARBAN;VITAMIN D NOS;ZINC [Concomitant]
     Indication: Malnutrition
     Dosage: UNK, QD
     Route: 048
     Dates: start: 20190104
  539. DIPHENHYDRAMINE;RETINOL;TRICLOCARBAN;VITAMIN D NOS;ZINC [Concomitant]
     Indication: Prophylaxis
     Dosage: UNK UNK, BID
     Route: 065
     Dates: start: 20190103, end: 20191011
  540. DIPHENHYDRAMINE;RETINOL;TRICLOCARBAN;VITAMIN D NOS;ZINC [Concomitant]
     Dosage: UNK, QD
     Route: 048
     Dates: start: 20190104
  541. DIPHENHYDRAMINE;RETINOL;TRICLOCARBAN;VITAMIN D NOS;ZINC [Concomitant]
     Dosage: UNK, BID
     Route: 048
     Dates: start: 20190102, end: 20191029
  542. DIPHENHYDRAMINE;RETINOL;TRICLOCARBAN;VITAMIN D NOS;ZINC [Concomitant]
     Dosage: UNK, QD
     Route: 048
     Dates: start: 20190102, end: 20191029
  543. DIPHENHYDRAMINE;RETINOL;TRICLOCARBAN;VITAMIN D NOS;ZINC [Concomitant]
     Dosage: UNK UNK, BID
     Route: 048
     Dates: start: 20190103
  544. DIPHENHYDRAMINE;RETINOL;TRICLOCARBAN;VITAMIN D NOS;ZINC [Concomitant]
     Dosage: UNK UNK, QD
     Route: 065
     Dates: start: 20190102, end: 20190129
  545. DIPHENHYDRAMINE;RETINOL;TRICLOCARBAN;VITAMIN D NOS;ZINC [Concomitant]
     Dosage: UNK
     Route: 065
     Dates: start: 20190103, end: 20191011
  546. DIPHENHYDRAMINE;RETINOL;TRICLOCARBAN;VITAMIN D NOS;ZINC [Concomitant]
     Dosage: UNK UNK, BID
     Route: 048
     Dates: start: 20190103, end: 20191011
  547. ZOLEDRONIC ACID [Concomitant]
     Active Substance: ZOLEDRONIC ACID
     Indication: Prophylaxis
     Dosage: 4 MILLIGRAM
     Route: 041
     Dates: start: 20181106
  548. ZOLEDRONIC ACID [Concomitant]
     Active Substance: ZOLEDRONIC ACID
     Dosage: 4 MILLIGRAM, OD
     Route: 041
     Dates: start: 20181106
  549. ZOLEDRONIC ACID [Concomitant]
     Active Substance: ZOLEDRONIC ACID
     Dosage: 4 MILLIGRAM IN 1 MONTH
     Route: 041
     Dates: start: 20181106
  550. ZOLEDRONIC ACID [Concomitant]
     Active Substance: ZOLEDRONIC ACID
     Dosage: 4 MILLIGRAM, QD
     Route: 041
     Dates: start: 20181106
  551. ZOLEDRONIC ACID [Concomitant]
     Active Substance: ZOLEDRONIC ACID
     Dosage: UNK
  552. ACETAMINOPHEN\CODEINE PHOSPHATE [Concomitant]
     Active Substance: ACETAMINOPHEN\CODEINE PHOSPHATE
     Indication: Product used for unknown indication
     Dosage: UNK
     Route: 048
  553. ACETAMINOPHEN\CODEINE PHOSPHATE [Concomitant]
     Active Substance: ACETAMINOPHEN\CODEINE PHOSPHATE
     Dosage: UNK
     Route: 048
  554. MEGACE [Concomitant]
     Active Substance: MEGESTROL ACETATE
     Indication: Malnutrition
     Dosage: 7.5 MILLILITER, BID
     Route: 048
     Dates: start: 20191011
  555. MEGACE [Concomitant]
     Active Substance: MEGESTROL ACETATE
     Dosage: 15 MILLILITER, QD
     Route: 048
     Dates: start: 20191011
  556. MEGACE [Concomitant]
     Active Substance: MEGESTROL ACETATE
     Dosage: 15 MILLILITER, QD
     Route: 048
     Dates: start: 20191019
  557. MEGACE [Concomitant]
     Active Substance: MEGESTROL ACETATE
     Dosage: 7.5 MILLILITER, QD
     Route: 048
     Dates: start: 20191011
  558. LIDOCAINE [CHLORHEXIDINE;LIDOCAINE] [Concomitant]
     Indication: Tongue coated
     Dosage: 10 MILLILITER, TID
     Route: 048
     Dates: start: 20191116, end: 20191220
  559. LIDOCAINE [CHLORHEXIDINE;LIDOCAINE] [Concomitant]
     Indication: Malnutrition
     Dosage: 30 MILLILITER
     Route: 048
     Dates: start: 20191116, end: 20191220
  560. LIDOCAINE [CHLORHEXIDINE;LIDOCAINE] [Concomitant]
     Indication: Product used for unknown indication
     Dosage: UNK, OD
     Route: 048
     Dates: start: 20190103, end: 20191011
  561. LIDOCAINE [CHLORHEXIDINE;LIDOCAINE] [Concomitant]
     Dosage: 90 ML, QD, (30 MILLILITER, TID)
     Route: 048
     Dates: start: 20191116, end: 20191220
  562. MAGNOZONE [MAGNESIUM OXIDE] [Concomitant]
     Indication: Malnutrition
     Dosage: UNK UNK, BID
     Route: 048
     Dates: start: 20190103, end: 20191011
  563. MAGNOZONE [MAGNESIUM OXIDE] [Concomitant]
     Dosage: UNK
     Route: 065
  564. MAGNOZONE [MAGNESIUM OXIDE] [Concomitant]
     Dosage: UNK, UNK, QD
     Route: 048
     Dates: start: 20190103, end: 20191011
  565. MAGNOZONE [MAGNESIUM OXIDE] [Concomitant]
     Dosage: UNK
     Route: 065
  566. MAGNOZONE [MAGNESIUM OXIDE] [Concomitant]
     Dosage: UNK
     Route: 065
  567. MAGNOZONE [MAGNESIUM OXIDE] [Concomitant]
     Dosage: UNK
     Route: 065
  568. MAGNOZONE [MAGNESIUM OXIDE] [Concomitant]
     Dosage: UNK
     Route: 065
  569. MAGNOZONE [MAGNESIUM OXIDE] [Concomitant]
     Dosage: UNK
     Route: 065
  570. MAGNOZONE [MAGNESIUM OXIDE] [Concomitant]
     Dosage: UNK
     Route: 065
  571. MAGNOZONE [MAGNESIUM OXIDE] [Concomitant]
     Dosage: UNK
     Route: 065
  572. MAGNOZONE [MAGNESIUM OXIDE] [Concomitant]
     Dosage: UNK
     Route: 065
  573. MAGNOZONE [MAGNESIUM OXIDE] [Concomitant]
     Dosage: UNK
     Route: 065
  574. MAGNOZONE [MAGNESIUM OXIDE] [Concomitant]
     Dosage: UNK
     Route: 048
  575. MAGNOZONE [MAGNESIUM OXIDE] [Concomitant]
     Dosage: UNK
     Route: 048
  576. MAGNOZONE [MAGNESIUM OXIDE] [Concomitant]
     Dosage: UNK
     Route: 065
  577. MAGNOZONE [MAGNESIUM OXIDE] [Concomitant]
     Dosage: UNK, UNK, QD
     Route: 048
     Dates: start: 20190103, end: 20191011
  578. MAGNOZONE [MAGNESIUM OXIDE] [Concomitant]
     Dosage: UNK
     Route: 065
  579. PRIMODIL [AMLODIPINE] [Concomitant]
     Indication: Hypertension
     Dosage: 10 MILLIGRAM, QD
     Route: 048
     Dates: start: 20191204
  580. PRIMODIL [AMLODIPINE] [Concomitant]
     Indication: Product used for unknown indication
     Dosage: 10 MILLIGRAM, QD
     Route: 048
  581. PRIMODIL [AMLODIPINE] [Concomitant]
     Dosage: 10 MILLIGRAM, OD
     Route: 048
     Dates: start: 20191204, end: 20191204
  582. PRIMODIL [AMLODIPINE] [Concomitant]
     Dosage: 10 MILLIGRAM, QD
     Route: 048
  583. PRIMODIL [AMLODIPINE] [Concomitant]
     Dosage: 10 MILLIGRAM, QD
     Route: 048
     Dates: end: 20191204
  584. PRIMODIL [AMLODIPINE] [Concomitant]
     Dosage: 10 MILLIGRAM, QD
     Route: 048
     Dates: start: 20191204
  585. PRIMODIL [AMLODIPINE] [Concomitant]
     Dosage: 10 MILLIGRAM, QD
     Route: 048
  586. PRIMODIL [AMLODIPINE] [Concomitant]
     Dosage: 10 MG, QD
     Route: 048
  587. PRIMODIL [AMLODIPINE] [Concomitant]
     Dosage: 10 MG, QD
     Route: 048
  588. PRIMODIL [AMLODIPINE] [Concomitant]
     Dosage: 10 MILLIGRAM, QD
     Route: 048
  589. PRIMODIL [AMLODIPINE] [Concomitant]
     Dosage: 10 MILLIGRAM, QD
     Route: 048
  590. PRIMODIL [AMLODIPINE] [Concomitant]
     Dosage: 10 MG, QD
     Route: 048
  591. PRIMODIL [AMLODIPINE] [Concomitant]
     Dosage: 10 MG, QD
     Route: 048
  592. PRIMODIL [AMLODIPINE] [Concomitant]
     Route: 065
  593. PRIMODIL [AMLODIPINE] [Concomitant]
     Route: 065
  594. PRIMODIL [AMLODIPINE] [Concomitant]
     Dosage: 10 MG, QD
     Route: 048
  595. PRIMODIL [AMLODIPINE] [Concomitant]
     Dosage: 10 MG, QD
     Route: 048
  596. PRIMODIL [AMLODIPINE] [Concomitant]
     Dosage: 10 MILLIGRAM, QD
     Route: 048
  597. PRIMODIL [AMLODIPINE] [Concomitant]
     Dosage: 10 MILLIGRAM, QD
     Route: 048
  598. PRIMODIL [AMLODIPINE] [Concomitant]
     Dosage: 10 MG, QD
     Route: 048
  599. PRIMODIL [AMLODIPINE] [Concomitant]
     Dosage: 10 MG, QD
     Route: 048
  600. PRIMODIL [AMLODIPINE] [Concomitant]
     Dosage: 10 MILLIGRAM, QD
     Route: 048
  601. PRIMODIL [AMLODIPINE] [Concomitant]
     Dosage: 10 MILLIGRAM, QD
     Route: 048
  602. PRIMODIL [AMLODIPINE] [Concomitant]
     Dosage: 10 MG, QD
     Route: 048
  603. PRIMODIL [AMLODIPINE] [Concomitant]
     Dosage: 10 MG, QD
     Route: 048
  604. PRIMODIL [AMLODIPINE] [Concomitant]
     Dosage: 10 MILLIGRAM, QD
     Route: 048
  605. PRIMODIL [AMLODIPINE] [Concomitant]
     Dosage: 10 MILLIGRAM, QD
     Route: 048
  606. PRIMODIL [AMLODIPINE] [Concomitant]
     Dosage: 10 MILLIGRAM, QD
     Route: 048
     Dates: end: 20191204
  607. PRIMODIL [AMLODIPINE] [Concomitant]
     Dosage: 10 MILLIGRAM, QD
     Route: 048
  608. PRIMODIL [AMLODIPINE] [Concomitant]
     Dosage: 10 MILLIGRAM, QD
     Route: 048
  609. CALCIUM CARBONATE [Concomitant]
     Active Substance: CALCIUM CARBONATE
     Indication: Malnutrition
     Dosage: UNK, BID
     Route: 048
     Dates: start: 20190103, end: 20191011
  610. CYCLOPHOSPHAMIDE [Concomitant]
     Active Substance: CYCLOPHOSPHAMIDE
     Indication: Plasma cell myeloma
     Dosage: 300 MG, QW
     Route: 048
     Dates: start: 20191213, end: 20191228
  611. CYCLOPHOSPHAMIDE [Concomitant]
     Active Substance: CYCLOPHOSPHAMIDE
     Indication: Product used for unknown indication
     Dosage: 300 MG, QD
     Route: 048
     Dates: start: 20190907, end: 20191010
  612. CYCLOPHOSPHAMIDE [Concomitant]
     Active Substance: CYCLOPHOSPHAMIDE
     Dosage: 11100 MG
     Route: 065
     Dates: start: 20191213
  613. CYCLOPHOSPHAMIDE [Concomitant]
     Active Substance: CYCLOPHOSPHAMIDE
     Dosage: UNK
     Route: 065
     Dates: start: 2019, end: 20191213
  614. CYCLOPHOSPHAMIDE [Concomitant]
     Active Substance: CYCLOPHOSPHAMIDE
     Dosage: 36.59 MG
     Route: 065
     Dates: end: 20191213
  615. CYCLOPHOSPHAMIDE [Concomitant]
     Active Substance: CYCLOPHOSPHAMIDE
     Dosage: 300 MG, QD
     Route: 048
     Dates: start: 20190907, end: 20190907
  616. CYCLOPHOSPHAMIDE [Concomitant]
     Active Substance: CYCLOPHOSPHAMIDE
     Dosage: 7800 MG
     Route: 065
     Dates: start: 20191213
  617. CYCLOPHOSPHAMIDE [Concomitant]
     Active Substance: CYCLOPHOSPHAMIDE
     Dosage: 7800 MG
     Route: 065
     Dates: start: 2019, end: 20191213
  618. CYCLOPHOSPHAMIDE [Concomitant]
     Active Substance: CYCLOPHOSPHAMIDE
     Dosage: 300 MG, QD
     Route: 048
     Dates: start: 20191010
  619. CYCLOPHOSPHAMIDE [Concomitant]
     Active Substance: CYCLOPHOSPHAMIDE
     Dosage: 300 MG, QD
     Route: 048
     Dates: end: 2019
  620. CYCLOPHOSPHAMIDE [Concomitant]
     Active Substance: CYCLOPHOSPHAMIDE
     Dosage: 300 MG, QD
     Route: 048
     Dates: start: 2019, end: 20191213
  621. CYCLOPHOSPHAMIDE [Concomitant]
     Active Substance: CYCLOPHOSPHAMIDE
     Dosage: 300 MG, QD
     Route: 048
     Dates: start: 20191213, end: 20191226
  622. CYCLOPHOSPHAMIDE [Concomitant]
     Active Substance: CYCLOPHOSPHAMIDE
     Dosage: 300 MG, QD
     Route: 048
  623. CYCLOPHOSPHAMIDE [Concomitant]
     Active Substance: CYCLOPHOSPHAMIDE
     Dosage: 36.59 MG
     Route: 065
     Dates: end: 2019
  624. CYCLOPHOSPHAMIDE [Concomitant]
     Active Substance: CYCLOPHOSPHAMIDE
     Dosage: 4 MG, QW
     Route: 048
     Dates: start: 20191213, end: 20191226
  625. CYCLOPHOSPHAMIDE [Concomitant]
     Active Substance: CYCLOPHOSPHAMIDE
     Dosage: 300 MILLIGRAM, QD
     Route: 048
  626. CYCLOPHOSPHAMIDE [Concomitant]
     Active Substance: CYCLOPHOSPHAMIDE
     Dosage: 11100 MILLIGRAM
     Route: 065
     Dates: start: 20191213
  627. CYCLOPHOSPHAMIDE [Concomitant]
     Active Substance: CYCLOPHOSPHAMIDE
     Dosage: 4 MG, WEEKLY
     Route: 048
     Dates: start: 20191213, end: 20191226
  628. CYCLOPHOSPHAMIDE [Concomitant]
     Active Substance: CYCLOPHOSPHAMIDE
     Dosage: UNK
     Route: 065
     Dates: end: 2019
  629. CYCLOPHOSPHAMIDE [Concomitant]
     Active Substance: CYCLOPHOSPHAMIDE
     Route: 065
  630. CYCLOPHOSPHAMIDE [Concomitant]
     Active Substance: CYCLOPHOSPHAMIDE
     Route: 065
  631. CYCLOPHOSPHAMIDE [Concomitant]
     Active Substance: CYCLOPHOSPHAMIDE
     Dosage: 300 MILLIGRAM, QD
     Route: 048
  632. CYCLOPHOSPHAMIDE [Concomitant]
     Active Substance: CYCLOPHOSPHAMIDE
     Dosage: UNK
     Route: 065
  633. CYCLOPHOSPHAMIDE [Concomitant]
     Active Substance: CYCLOPHOSPHAMIDE
     Dosage: 11100 MILLIGRAM
     Route: 065
     Dates: end: 20191213
  634. CYCLOPHOSPHAMIDE [Concomitant]
     Active Substance: CYCLOPHOSPHAMIDE
     Dosage: UNK
     Route: 065
     Dates: end: 2019
  635. CYCLOPHOSPHAMIDE [Concomitant]
     Active Substance: CYCLOPHOSPHAMIDE
     Dosage: UNK
     Route: 065
     Dates: end: 2019
  636. CYCLOPHOSPHAMIDE [Concomitant]
     Active Substance: CYCLOPHOSPHAMIDE
     Dosage: 300 MILLIGRAM, OD
     Route: 048
     Dates: end: 20191213
  637. CYCLOPHOSPHAMIDE [Concomitant]
     Active Substance: CYCLOPHOSPHAMIDE
     Dosage: UNK
     Route: 065
     Dates: end: 20191213
  638. CYCLOPHOSPHAMIDE [Concomitant]
     Active Substance: CYCLOPHOSPHAMIDE
     Dosage: UNK
     Route: 065
  639. CYCLOPHOSPHAMIDE [Concomitant]
     Active Substance: CYCLOPHOSPHAMIDE
     Dosage: 300 MILLIGRAM, QD
     Route: 048
     Dates: start: 20190907, end: 20190907
  640. CYCLOPHOSPHAMIDE [Concomitant]
     Active Substance: CYCLOPHOSPHAMIDE
     Dosage: 300 MG, QD
     Route: 048
  641. MYCOSTATIN [Concomitant]
     Active Substance: NYSTATIN
     Indication: Prophylaxis
     Dosage: UNK; ;
     Route: 048
     Dates: start: 20190104
  642. MYCOSTATIN [Concomitant]
     Active Substance: NYSTATIN
     Indication: Tongue coated
     Dosage: 3 MILLILITER, QD
     Route: 048
     Dates: start: 20191116, end: 20191220
  643. MYCOSTATIN [Concomitant]
     Active Substance: NYSTATIN
     Indication: Tongue coated
     Dosage: 9 MILLILITER, QD
     Route: 048
     Dates: start: 20191116, end: 20191220
  644. MYCOSTATIN [Concomitant]
     Active Substance: NYSTATIN
     Indication: Tongue coated
     Dosage: UNK
     Route: 065
  645. MYCOSTATIN [Concomitant]
     Active Substance: NYSTATIN
     Indication: Tongue coated
     Dosage: UNK
     Route: 048
     Dates: start: 20190104
  646. MYCOSTATIN [Concomitant]
     Active Substance: NYSTATIN
     Dosage: 1 DOSAGE FORM, UNK
     Route: 065
     Dates: start: 20190104
  647. MYCOSTATIN [Concomitant]
     Active Substance: NYSTATIN
     Dosage: UNK
     Route: 065
  648. MYCOSTATIN [Concomitant]
     Active Substance: NYSTATIN
     Dosage: 420 ML
     Route: 048
  649. MYCOSTATIN [Concomitant]
     Active Substance: NYSTATIN
     Dosage: 9 MILLIGRAM, QD
     Route: 048
     Dates: start: 20191116, end: 20191220
  650. MYCOSTATIN [Concomitant]
     Active Substance: NYSTATIN
     Dosage: 420 ML
     Route: 048
  651. MYCOSTATIN [Concomitant]
     Active Substance: NYSTATIN
     Dosage: 420 ML
     Route: 048
  652. MYCOSTATIN [Concomitant]
     Active Substance: NYSTATIN
     Dosage: 420 MILLILITRE
     Route: 048
  653. MYCOSTATIN [Concomitant]
     Active Substance: NYSTATIN
     Dosage: UNK
     Route: 065
  654. MYCOSTATIN [Concomitant]
     Active Substance: NYSTATIN
     Dosage: UNK
     Route: 065
  655. MYCOSTATIN [Concomitant]
     Active Substance: NYSTATIN
     Dosage: 1 DOSAGE FORM
     Route: 048
     Dates: end: 20190104
  656. MYCOSTATIN [Concomitant]
     Active Substance: NYSTATIN
     Dosage: UNK ML
     Route: 065
  657. MYCOSTATIN [Concomitant]
     Active Substance: NYSTATIN
     Dosage: UNK; ;
     Route: 048
  658. MYCOSTATIN [Concomitant]
     Active Substance: NYSTATIN
     Dosage: UNK; ;
     Route: 048
  659. TINZAPARIN [Concomitant]
     Active Substance: TINZAPARIN
     Indication: Prophylaxis
     Dosage: 10000 INTERNATIONAL UNIT, OD
     Route: 058
     Dates: start: 20190110
  660. TINZAPARIN [Concomitant]
     Active Substance: TINZAPARIN
     Indication: Product used for unknown indication
  661. INFLUENZA VIRUS VACCINE [Concomitant]
     Active Substance: INFLUENZA VIRUS VACCINE
     Indication: Prophylaxis
     Dosage: UNK
     Route: 065
     Dates: start: 20191112, end: 20191112
  662. INFLUENZA VIRUS VACCINE [Concomitant]
     Active Substance: INFLUENZA VIRUS VACCINE
     Dosage: UNK
     Route: 065
  663. INFLUENZA VIRUS VACCINE [Concomitant]
     Active Substance: INFLUENZA VIRUS VACCINE
     Dosage: UNK
     Route: 065
  664. DIETARY SUPPLEMENT [Concomitant]
     Active Substance: DIETARY SUPPLEMENT
     Indication: Malnutrition
     Dosage: UNK, QD
     Dates: start: 20190102, end: 20191029
  665. DIETARY SUPPLEMENT [Concomitant]
     Active Substance: DIETARY SUPPLEMENT
     Dosage: UNK, QD
     Dates: start: 20190103, end: 20191111
  666. DIETARY SUPPLEMENT [Concomitant]
     Active Substance: DIETARY SUPPLEMENT
     Dosage: 1 CARTON, QD
     Route: 048
     Dates: start: 20190102, end: 20191029
  667. SODIUM FLUORIDE [Concomitant]
     Active Substance: SODIUM FLUORIDE
     Indication: Malnutrition
     Dosage: 90 MILLILITER
     Route: 048
     Dates: start: 20190103
  668. altraplen protein [Concomitant]
     Indication: Malnutrition
     Dosage: 1 CARTON
     Route: 048
     Dates: start: 20191117
  669. DIETARY SUPPLEMENT [Concomitant]
     Active Substance: DIETARY SUPPLEMENT
     Indication: Malnutrition
     Dosage: 90 ML, QD
     Route: 048
     Dates: start: 20190103
  670. DIETARY SUPPLEMENT [Concomitant]
     Active Substance: DIETARY SUPPLEMENT
     Dosage: UNK UNK, QD
     Route: 048
     Dates: start: 20190103, end: 20191111
  671. DIETARY SUPPLEMENT [Concomitant]
     Active Substance: DIETARY SUPPLEMENT
     Dosage: 1 CARTON, QD
     Route: 048
     Dates: start: 20190102, end: 20191029
  672. COTRIMOXAZOLE [Concomitant]
     Active Substance: SULFAMETHOXAZOLE\TRIMETHOPRIM
     Indication: Antifungal prophylaxis
     Dosage: 480 MILLIGRAM, QD
     Dates: start: 20180817, end: 20191015
  673. COTRIMOXAZOLE [Concomitant]
     Active Substance: SULFAMETHOXAZOLE\TRIMETHOPRIM
     Indication: Product used for unknown indication
     Dosage: UNK
     Route: 065
  674. ZINC SULFATE [Concomitant]
     Active Substance: ZINC SULFATE
     Indication: Malnutrition
     Dosage: UNK
     Route: 065
  675. ZINC SULFATE [Concomitant]
     Active Substance: ZINC SULFATE
     Dosage: UNK, QD, (UNK, BID)
     Route: 048
     Dates: start: 20190103, end: 20191011
  676. ZINC SULFATE [Concomitant]
     Active Substance: ZINC SULFATE
     Dosage: UNK
     Route: 065
  677. FORTICAL [Concomitant]
     Active Substance: CALCITONIN SALMON
     Indication: Product used for unknown indication
     Dosage: UNK
     Route: 065
  678. DECAPEPTYL [Concomitant]
     Indication: Prostate cancer
     Dosage: 45 MG (1 DOSE YEARLY, 11.25 MG)
     Route: 065
     Dates: start: 20190515
  679. DECAPEPTYL [Concomitant]
     Dosage: 11.25 MG, Q12MO (11.25 MILLIGRAM, QID, 11.25 MG, QID)
     Route: 065
     Dates: start: 20190515
  680. HYPOTEN [AMLODIPINE] [Concomitant]
     Indication: Hypertension
     Dosage: 10 MILLIGRAM, QD
  681. HYPOTEN [AMLODIPINE] [Concomitant]
     Dosage: 10 MILLIGRAM
  682. HYPOTEN [AMLODIPINE] [Concomitant]
     Dosage: 10 MILLIGRAM, QD
     Dates: start: 20191204, end: 20191204
  683. SODIUM FLUORIDE [Concomitant]
     Active Substance: SODIUM FLUORIDE
     Indication: Malnutrition
     Dosage: 90 MILLILITER, QD
     Dates: start: 20190103
  684. XYLOCAINA [LIDOCAINE] [Concomitant]
     Indication: Tongue coated
     Dosage: 30 MILLILITER, QD
     Dates: start: 20191116
  685. XYLOCAINA [LIDOCAINE] [Concomitant]
     Indication: Malnutrition
     Dosage: UNK, QD
     Dates: start: 20190103, end: 20191011
  686. XYLOCAINA [LIDOCAINE] [Concomitant]
     Dosage: 90 MILLILITER, QD
     Dates: start: 20191116, end: 20191220
  687. Altraplen compact [Concomitant]
     Indication: Malnutrition
     Dosage: UNK
     Dates: start: 20191117
  688. CHOLECALCIFEROL [Concomitant]
     Active Substance: CHOLECALCIFEROL
     Indication: Bone disorder
     Dosage: UNK, TID
     Dates: start: 20190103, end: 20190211
  689. CHOLECALCIFEROL [Concomitant]
     Active Substance: CHOLECALCIFEROL
     Indication: Malnutrition
     Dosage: UNK, BID
     Dates: start: 20190212, end: 20191015
  690. CHOLECALCIFEROL [Concomitant]
     Active Substance: CHOLECALCIFEROL
     Indication: Prophylaxis
     Dosage: UNK, BID
     Dates: start: 20190103, end: 20191011
  691. CHOLECALCIFEROL [Concomitant]
     Active Substance: CHOLECALCIFEROL
     Dosage: UNK, QD
     Dates: start: 20191016, end: 20191029
  692. DOPPELHERZ AKTIV VITAMIN D [VITAMIN D NOS] [Concomitant]
     Indication: Malnutrition
     Dosage: UNK, QD
     Dates: start: 20190104
  693. DOPPELHERZ AKTIV VITAMIN D [VITAMIN D NOS] [Concomitant]
     Dosage: UNK, BID
     Dates: start: 20190102, end: 20191029
  694. DOPPELHERZ AKTIV VITAMIN D [VITAMIN D NOS] [Concomitant]
     Dosage: UNK, QD
     Dates: start: 20190103, end: 20191111
  695. DOPPELHERZ AKTIV VITAMIN D [VITAMIN D NOS] [Concomitant]
     Dosage: UNK, QD
     Dates: start: 20190102, end: 20190129
  696. DOPPELHERZ AKTIV VITAMIN D [VITAMIN D NOS] [Concomitant]
     Dosage: UNK, BID
     Dates: start: 20190102, end: 20191029
  697. DOPPELHERZ AKTIV VITAMIN D [VITAMIN D NOS] [Concomitant]
     Dosage: UNK, BID
     Dates: start: 20190103, end: 20191011
  698. DOPPELHERZ AKTIV VITAMIN D [VITAMIN D NOS] [Concomitant]
     Dosage: UNK, BID
     Dates: start: 20190104
  699. CHOLECALCIFEROL [Concomitant]
     Active Substance: CHOLECALCIFEROL
     Indication: Product used for unknown indication
     Dosage: UNK
     Route: 065
  700. CHOLECALCIFEROL [Concomitant]
     Active Substance: CHOLECALCIFEROL
     Dosage: UNK
     Route: 065
  701. LEVEMIR [Concomitant]
     Active Substance: INSULIN DETEMIR
     Indication: Product used for unknown indication
     Dosage: UNK
     Route: 065
  702. LEVEMIR [Concomitant]
     Active Substance: INSULIN DETEMIR
     Dosage: UNK
     Route: 065
  703. METHOTREXATE SODIUM [Concomitant]
     Active Substance: METHOTREXATE SODIUM
     Indication: Blood pressure abnormal
     Dosage: UNK
     Route: 065
  704. METHOTREXATE SODIUM [Concomitant]
     Active Substance: METHOTREXATE SODIUM
     Dosage: UNK
     Route: 065
  705. NOVORAPID [Concomitant]
     Active Substance: INSULIN ASPART
     Indication: Product used for unknown indication
     Dosage: UNK
     Route: 065
  706. NOVORAPID [Concomitant]
     Active Substance: INSULIN ASPART
     Dosage: UNK
     Route: 065
  707. NINLARO [Concomitant]
     Active Substance: IXAZOMIB CITRATE
     Indication: Product used for unknown indication
     Dosage: 2.3 MILLIGRAM, 1/WEEK
     Route: 065
  708. NINLARO [Concomitant]
     Active Substance: IXAZOMIB CITRATE
     Dosage: 4 MILLIGRAM;
     Route: 065
  709. NINLARO [Concomitant]
     Active Substance: IXAZOMIB CITRATE
     Dosage: 2.3 MILLIGRAM, 1/WEEK
     Route: 065
  710. NINLARO [Concomitant]
     Active Substance: IXAZOMIB CITRATE
     Dosage: 4 MILLIGRAM;
     Route: 065
  711. METOCLOPRAMIDE HYDROCHLORIDE [Concomitant]
     Active Substance: METOCLOPRAMIDE HYDROCHLORIDE
     Indication: Product used for unknown indication
     Route: 065
  712. METOCLOPRAMIDE HYDROCHLORIDE [Concomitant]
     Active Substance: METOCLOPRAMIDE HYDROCHLORIDE
     Route: 065

REACTIONS (11)
  - Respiratory tract infection [Recovered/Resolved]
  - COVID-19 [Fatal]
  - Neutropenia [Recovered/Resolved]
  - Pulmonary embolism [Fatal]
  - Thrombocytopenia [Recovered/Resolved]
  - Respiratory tract infection viral [Not Recovered/Not Resolved]
  - Anaemia [Recovered/Resolved]
  - Respiratory tract infection bacterial [Recovered/Resolved]
  - Full blood count abnormal [Unknown]
  - Malaise [Unknown]
  - Product dose omission issue [Unknown]

NARRATIVE: CASE EVENT DATE: 20181008
